FAERS Safety Report 21561346 (Version 14)
Quarter: 2025Q4

REPORT INFORMATION
  Report Type: Spontaneous
  Country: CA (occurrence: CA)
  Receive Date: 20221107
  Receipt Date: 20251224
  Transmission Date: 20260118
  Serious: Yes (Death, Other)
  Sender: BRISTOL-MYERS SQUIBB COMPANY
  Company Number: CA-BRISTOL-MYERS SQUIBB COMPANY-2022-133512

PATIENT
  Age: 43 Year
  Sex: Female
  Weight: 68 kg

DRUGS (1013)
  1. ORENCIA [Suspect]
     Active Substance: ABATACEPT
     Indication: Rheumatoid arthritis
     Route: 058
  2. ORENCIA [Suspect]
     Active Substance: ABATACEPT
     Route: 058
  3. ORENCIA [Suspect]
     Active Substance: ABATACEPT
     Route: 058
  4. ORENCIA [Suspect]
     Active Substance: ABATACEPT
     Route: 058
  5. ORENCIA [Suspect]
     Active Substance: ABATACEPT
     Route: 058
  6. ORENCIA [Suspect]
     Active Substance: ABATACEPT
     Route: 058
  7. ORENCIA [Suspect]
     Active Substance: ABATACEPT
     Indication: Rheumatoid arthritis
     Route: 042
  8. ORENCIA [Suspect]
     Active Substance: ABATACEPT
     Indication: Psoriatic arthropathy
     Route: 041
  9. ORENCIA [Suspect]
     Active Substance: ABATACEPT
     Route: 042
  10. ORENCIA [Suspect]
     Active Substance: ABATACEPT
     Route: 042
  11. ORENCIA [Suspect]
     Active Substance: ABATACEPT
     Route: 042
  12. ORENCIA [Suspect]
     Active Substance: ABATACEPT
     Route: 042
  13. ORENCIA [Suspect]
     Active Substance: ABATACEPT
     Route: 042
  14. ORENCIA [Suspect]
     Active Substance: ABATACEPT
     Route: 040
  15. ORENCIA [Suspect]
     Active Substance: ABATACEPT
     Route: 042
  16. ORENCIA [Suspect]
     Active Substance: ABATACEPT
     Indication: Rheumatoid arthritis
  17. ORENCIA [Suspect]
     Active Substance: ABATACEPT
  18. ORENCIA [Suspect]
     Active Substance: ABATACEPT
  19. ORENCIA [Suspect]
     Active Substance: ABATACEPT
  20. ORENCIA [Suspect]
     Active Substance: ABATACEPT
  21. ORENCIA [Suspect]
     Active Substance: ABATACEPT
  22. ORENCIA [Suspect]
     Active Substance: ABATACEPT
  23. ORENCIA [Suspect]
     Active Substance: ABATACEPT
     Route: 048
  24. ORENCIA [Suspect]
     Active Substance: ABATACEPT
     Indication: Rheumatoid arthritis
     Route: 015
  25. ORENCIA [Suspect]
     Active Substance: ABATACEPT
     Indication: Psoriatic arthropathy
     Route: 058
  26. ORENCIA [Suspect]
     Active Substance: ABATACEPT
  27. ORENCIA [Suspect]
     Active Substance: ABATACEPT
     Route: 042
  28. ORENCIA [Suspect]
     Active Substance: ABATACEPT
  29. ORENCIA [Suspect]
     Active Substance: ABATACEPT
     Route: 042
  30. ORENCIA [Suspect]
     Active Substance: ABATACEPT
     Route: 040
  31. TRIAMCINOLONE ACETONIDE [Suspect]
     Active Substance: TRIAMCINOLONE ACETONIDE
     Indication: Rheumatoid arthritis
     Dosage: SUSPENSION INTRA- ARTICULAR
  32. TRIAMCINOLONE ACETONIDE [Suspect]
     Active Substance: TRIAMCINOLONE ACETONIDE
     Route: 003
  33. CALCIUM CARBONATE [Concomitant]
     Active Substance: CALCIUM CARBONATE
     Indication: Product used for unknown indication
  34. CALCIUM CARBONATE [Concomitant]
     Active Substance: CALCIUM CARBONATE
  35. ACETAMINOPHEN\OXYCODONE HYDROCHLORIDE [Concomitant]
     Active Substance: ACETAMINOPHEN\OXYCODONE HYDROCHLORIDE
     Indication: Product used for unknown indication
  36. ACETAMINOPHEN [Concomitant]
     Active Substance: ACETAMINOPHEN
     Indication: Rheumatoid arthritis
  37. ACETAMINOPHEN [Concomitant]
     Active Substance: ACETAMINOPHEN
     Route: 048
  38. ACETAMINOPHEN [Concomitant]
     Active Substance: ACETAMINOPHEN
  39. ACETAMINOPHEN [Concomitant]
     Active Substance: ACETAMINOPHEN
  40. ACETAMINOPHEN [Concomitant]
     Active Substance: ACETAMINOPHEN
  41. ACETAMINOPHEN [Concomitant]
     Active Substance: ACETAMINOPHEN
  42. ACETAMINOPHEN [Concomitant]
     Active Substance: ACETAMINOPHEN
  43. ACTEMRA [Concomitant]
     Active Substance: TOCILIZUMAB
     Indication: Rheumatoid arthritis
     Route: 042
  44. ACTEMRA [Concomitant]
     Active Substance: TOCILIZUMAB
     Route: 042
  45. ACTEMRA [Concomitant]
     Active Substance: TOCILIZUMAB
     Route: 058
  46. ACTEMRA [Concomitant]
     Active Substance: TOCILIZUMAB
     Route: 042
  47. ACTEMRA [Concomitant]
     Active Substance: TOCILIZUMAB
     Route: 048
  48. ACTEMRA [Concomitant]
     Active Substance: TOCILIZUMAB
  49. ACTEMRA [Concomitant]
     Active Substance: TOCILIZUMAB
  50. ACTEMRA [Concomitant]
     Active Substance: TOCILIZUMAB
     Route: 042
  51. ACTEMRA [Concomitant]
     Active Substance: TOCILIZUMAB
     Route: 058
  52. ACTEMRA [Concomitant]
     Active Substance: TOCILIZUMAB
     Route: 058
  53. ACTEMRA [Concomitant]
     Active Substance: TOCILIZUMAB
  54. ACTEMRA [Concomitant]
     Active Substance: TOCILIZUMAB
  55. ACTEMRA [Concomitant]
     Active Substance: TOCILIZUMAB
     Route: 042
  56. ACTEMRA [Concomitant]
     Active Substance: TOCILIZUMAB
     Route: 042
  57. ACTEMRA [Concomitant]
     Active Substance: TOCILIZUMAB
     Route: 058
  58. ACTEMRA [Concomitant]
     Active Substance: TOCILIZUMAB
     Route: 048
  59. ACTEMRA [Concomitant]
     Active Substance: TOCILIZUMAB
     Route: 042
  60. ACTEMRA [Concomitant]
     Active Substance: TOCILIZUMAB
     Route: 040
  61. ACTEMRA [Concomitant]
     Active Substance: TOCILIZUMAB
     Route: 040
  62. ACTEMRA [Concomitant]
     Active Substance: TOCILIZUMAB
     Route: 040
  63. ACTEMRA [Concomitant]
     Active Substance: TOCILIZUMAB
     Route: 040
  64. ACTEMRA [Concomitant]
     Active Substance: TOCILIZUMAB
     Route: 058
  65. ACTEMRA [Concomitant]
     Active Substance: TOCILIZUMAB
  66. ACTEMRA [Concomitant]
     Active Substance: TOCILIZUMAB
  67. ACTEMRA [Concomitant]
     Active Substance: TOCILIZUMAB
     Route: 040
  68. ACTEMRA [Concomitant]
     Active Substance: TOCILIZUMAB
     Route: 040
  69. ACTEMRA [Concomitant]
     Active Substance: TOCILIZUMAB
  70. ACTEMRA [Concomitant]
     Active Substance: TOCILIZUMAB
     Route: 040
  71. ACTEMRA [Concomitant]
     Active Substance: TOCILIZUMAB
     Route: 040
  72. ACTEMRA [Concomitant]
     Active Substance: TOCILIZUMAB
     Route: 040
  73. ACTEMRA [Concomitant]
     Active Substance: TOCILIZUMAB
     Route: 040
  74. ACTEMRA [Concomitant]
     Active Substance: TOCILIZUMAB
  75. ACTEMRA [Concomitant]
     Active Substance: TOCILIZUMAB
     Route: 042
  76. ACTEMRA [Concomitant]
     Active Substance: TOCILIZUMAB
     Route: 042
  77. ACTEMRA [Concomitant]
     Active Substance: TOCILIZUMAB
     Route: 042
  78. ADALIMUMAB [Concomitant]
     Active Substance: ADALIMUMAB
     Indication: Psoriatic arthropathy
     Dosage: SOLUTION SUBCUTANEOUS
     Route: 058
  79. ADALIMUMAB [Concomitant]
     Active Substance: ADALIMUMAB
     Indication: Rheumatoid arthritis
     Dosage: SOLUTION SUBCUTANEOUS
     Route: 048
  80. ADALIMUMAB [Concomitant]
     Active Substance: ADALIMUMAB
  81. ADALIMUMAB [Concomitant]
     Active Substance: ADALIMUMAB
     Dosage: SOLUTION SUBCUTANEOUS
     Route: 058
  82. ADALIMUMAB [Concomitant]
     Active Substance: ADALIMUMAB
     Route: 058
  83. ADALIMUMAB [Concomitant]
     Active Substance: ADALIMUMAB
     Dosage: SOLUTION SUBCUTANEOUS
     Route: 058
  84. ADALIMUMAB [Concomitant]
     Active Substance: ADALIMUMAB
     Dosage: SOLUTION SUBCUTANEOUS
     Route: 058
  85. ADALIMUMAB [Concomitant]
     Active Substance: ADALIMUMAB
     Dosage: SOLUTION SUBCUTANEOUS
     Route: 058
  86. ADALIMUMAB [Concomitant]
     Active Substance: ADALIMUMAB
     Dosage: SOLUTION SUBCUTANEOUS
  87. ALENDRONATE [Concomitant]
     Active Substance: ALENDRONATE SODIUM
     Indication: Rheumatoid arthritis
  88. ALENDRONATE [Concomitant]
     Active Substance: ALENDRONATE SODIUM
     Route: 048
  89. ALENDRONATE [Concomitant]
     Active Substance: ALENDRONATE SODIUM
     Route: 048
  90. ALENDRONATE [Concomitant]
     Active Substance: ALENDRONATE SODIUM
  91. ALENDRONATE [Concomitant]
     Active Substance: ALENDRONATE SODIUM
  92. PREDNISONE [Concomitant]
     Active Substance: PREDNISONE
     Indication: Rheumatoid arthritis
     Route: 048
  93. PREDNISONE [Concomitant]
     Active Substance: PREDNISONE
  94. PREDNISONE [Concomitant]
     Active Substance: PREDNISONE
  95. PREDNISONE [Concomitant]
     Active Substance: PREDNISONE
  96. PREDNISONE [Concomitant]
     Active Substance: PREDNISONE
  97. PREDNISONE [Concomitant]
     Active Substance: PREDNISONE
     Route: 048
  98. PREDNISONE [Concomitant]
     Active Substance: PREDNISONE
  99. PREDNISONE [Concomitant]
     Active Substance: PREDNISONE
     Route: 048
  100. PREDNISONE [Concomitant]
     Active Substance: PREDNISONE
  101. PREDNISONE [Concomitant]
     Active Substance: PREDNISONE
  102. PREDNISONE [Concomitant]
     Active Substance: PREDNISONE
     Route: 048
  103. PREDNISONE [Concomitant]
     Active Substance: PREDNISONE
     Route: 042
  104. PREDNISONE [Concomitant]
     Active Substance: PREDNISONE
     Route: 048
  105. PREDNISONE [Concomitant]
     Active Substance: PREDNISONE
  106. ARAVA [Concomitant]
     Active Substance: LEFLUNOMIDE
     Indication: Rheumatoid arthritis
     Route: 048
  107. ARAVA [Concomitant]
     Active Substance: LEFLUNOMIDE
  108. ARAVA [Concomitant]
     Active Substance: LEFLUNOMIDE
     Route: 048
  109. ARAVA [Concomitant]
     Active Substance: LEFLUNOMIDE
     Route: 048
  110. ARAVA [Concomitant]
     Active Substance: LEFLUNOMIDE
     Route: 048
  111. ARAVA [Concomitant]
     Active Substance: LEFLUNOMIDE
     Route: 048
  112. ARAVA [Concomitant]
     Active Substance: LEFLUNOMIDE
     Route: 048
  113. ARAVA [Concomitant]
     Active Substance: LEFLUNOMIDE
     Route: 005
  114. ARAVA [Concomitant]
     Active Substance: LEFLUNOMIDE
  115. ASCORBIC ACID [Concomitant]
     Active Substance: ASCORBIC ACID
     Indication: Product used for unknown indication
  116. ASCORBIC ACID [Concomitant]
     Active Substance: ASCORBIC ACID
     Indication: Product used for unknown indication
  117. ACETAMINOPHEN [Concomitant]
     Active Substance: ACETAMINOPHEN
     Indication: Product used for unknown indication
  118. ATIVAN [Concomitant]
     Active Substance: LORAZEPAM
     Indication: Product used for unknown indication
  119. CALCIUM GLUCONATE [Concomitant]
     Active Substance: CALCIUM GLUCONATE
     Indication: Product used for unknown indication
  120. CELEBREX [Concomitant]
     Active Substance: CELECOXIB
     Indication: Arthritis
     Route: 048
  121. CELEBREX [Concomitant]
     Active Substance: CELECOXIB
  122. CELEBREX [Concomitant]
     Active Substance: CELECOXIB
  123. CELEBREX [Concomitant]
     Active Substance: CELECOXIB
  124. CELEBREX [Concomitant]
     Active Substance: CELECOXIB
     Route: 048
  125. CETIRIZINE HYDROCHLORIDE [Concomitant]
     Active Substance: CETIRIZINE HYDROCHLORIDE
     Indication: Rheumatoid arthritis
     Route: 048
  126. CETIRIZINE HYDROCHLORIDE [Concomitant]
     Active Substance: CETIRIZINE HYDROCHLORIDE
  127. CETIRIZINE HYDROCHLORIDE [Concomitant]
     Active Substance: CETIRIZINE HYDROCHLORIDE
  128. CETIRIZINE HYDROCHLORIDE [Concomitant]
     Active Substance: CETIRIZINE HYDROCHLORIDE
  129. CETIRIZINE HYDROCHLORIDE [Concomitant]
     Active Substance: CETIRIZINE HYDROCHLORIDE
  130. CETIRIZINE HYDROCHLORIDE [Concomitant]
     Active Substance: CETIRIZINE HYDROCHLORIDE
  131. CETIRIZINE HYDROCHLORIDE [Concomitant]
     Active Substance: CETIRIZINE HYDROCHLORIDE
  132. CETIRIZINE HYDROCHLORIDE [Concomitant]
     Active Substance: CETIRIZINE HYDROCHLORIDE
  133. CETIRIZINE HYDROCHLORIDE [Concomitant]
     Active Substance: CETIRIZINE HYDROCHLORIDE
  134. CETIRIZINE HYDROCHLORIDE [Concomitant]
     Active Substance: CETIRIZINE HYDROCHLORIDE
  135. CETIRIZINE HYDROCHLORIDE [Concomitant]
     Active Substance: CETIRIZINE HYDROCHLORIDE
  136. CETIRIZINE HYDROCHLORIDE [Concomitant]
     Active Substance: CETIRIZINE HYDROCHLORIDE
     Route: 048
  137. CETIRIZINE HYDROCHLORIDE [Concomitant]
     Active Substance: CETIRIZINE HYDROCHLORIDE
     Route: 048
  138. CETIRIZINE HYDROCHLORIDE [Concomitant]
     Active Substance: CETIRIZINE HYDROCHLORIDE
     Route: 048
  139. CETIRIZINE HYDROCHLORIDE [Concomitant]
     Active Substance: CETIRIZINE HYDROCHLORIDE
  140. CETIRIZINE HYDROCHLORIDE [Concomitant]
     Active Substance: CETIRIZINE HYDROCHLORIDE
  141. CETIRIZINE HYDROCHLORIDE [Concomitant]
     Active Substance: CETIRIZINE HYDROCHLORIDE
  142. CETIRIZINE HYDROCHLORIDE [Concomitant]
     Active Substance: CETIRIZINE HYDROCHLORIDE
  143. CETIRIZINE HYDROCHLORIDE [Concomitant]
     Active Substance: CETIRIZINE HYDROCHLORIDE
  144. CHLORAPREP [Concomitant]
     Active Substance: CHLORHEXIDINE GLUCONATE\ISOPROPYL ALCOHOL
     Indication: Product used for unknown indication
  145. CHLORAPREP [Concomitant]
     Active Substance: CHLORHEXIDINE GLUCONATE\ISOPROPYL ALCOHOL
     Route: 048
  146. CHLORAPREP [Concomitant]
     Active Substance: CHLORHEXIDINE GLUCONATE\ISOPROPYL ALCOHOL
  147. CHOLECALCIFEROL [Concomitant]
     Active Substance: CHOLECALCIFEROL
     Indication: Rheumatoid arthritis
  148. CIMZIA [Concomitant]
     Active Substance: CERTOLIZUMAB PEGOL
     Indication: Rheumatoid arthritis
  149. CIMZIA [Concomitant]
     Active Substance: CERTOLIZUMAB PEGOL
     Indication: Psoriasis
     Route: 058
  150. CIMZIA [Concomitant]
     Active Substance: CERTOLIZUMAB PEGOL
     Route: 058
  151. CODEINE [Concomitant]
     Active Substance: CODEINE
     Indication: Product used for unknown indication
  152. CORTISONE (HYDROCORTISONE) [Concomitant]
     Active Substance: HYDROCORTISONE
     Indication: Rheumatoid arthritis
     Route: 003
  153. CORTISONE (HYDROCORTISONE) [Concomitant]
     Active Substance: HYDROCORTISONE
     Route: 058
  154. CORTISONE (HYDROCORTISONE) [Concomitant]
     Active Substance: HYDROCORTISONE
     Route: 048
  155. CORTISONE (HYDROCORTISONE) [Concomitant]
     Active Substance: HYDROCORTISONE
  156. CORTISONE (HYDROCORTISONE) [Concomitant]
     Active Substance: HYDROCORTISONE
     Route: 048
  157. CORTISONE (HYDROCORTISONE) [Concomitant]
     Active Substance: HYDROCORTISONE
     Route: 058
  158. CORTISONE (HYDROCORTISONE) [Concomitant]
     Active Substance: HYDROCORTISONE
     Route: 003
  159. CORTISONE (HYDROCORTISONE) [Concomitant]
     Active Substance: HYDROCORTISONE
  160. CORTISONE (HYDROCORTISONE) [Concomitant]
     Active Substance: HYDROCORTISONE
     Route: 048
  161. CORTISONE (HYDROCORTISONE) [Concomitant]
     Active Substance: HYDROCORTISONE
  162. CORTISONE (HYDROCORTISONE) [Concomitant]
     Active Substance: HYDROCORTISONE
  163. CORTISONE (HYDROCORTISONE) [Concomitant]
     Active Substance: HYDROCORTISONE
  164. CORTISONE (HYDROCORTISONE) [Concomitant]
     Active Substance: HYDROCORTISONE
  165. CORTISONE (HYDROCORTISONE) [Concomitant]
     Active Substance: HYDROCORTISONE
  166. CORTISONE (HYDROCORTISONE) [Concomitant]
     Active Substance: HYDROCORTISONE
     Route: 003
  167. CORTISONE (HYDROCORTISONE) [Concomitant]
     Active Substance: HYDROCORTISONE
  168. CORTISONE (HYDROCORTISONE) [Concomitant]
     Active Substance: HYDROCORTISONE
  169. COSENTYX [Concomitant]
     Active Substance: SECUKINUMAB
     Indication: Psoriatic arthropathy
  170. COSENTYX [Concomitant]
     Active Substance: SECUKINUMAB
  171. COSENTYX [Concomitant]
     Active Substance: SECUKINUMAB
     Route: 048
  172. COSENTYX [Concomitant]
     Active Substance: SECUKINUMAB
  173. COSENTYX [Concomitant]
     Active Substance: SECUKINUMAB
     Route: 048
  174. COSENTYX [Concomitant]
     Active Substance: SECUKINUMAB
     Route: 048
  175. COSENTYX [Concomitant]
     Active Substance: SECUKINUMAB
     Route: 048
  176. COSENTYX [Concomitant]
     Active Substance: SECUKINUMAB
     Route: 048
  177. COSENTYX [Concomitant]
     Active Substance: SECUKINUMAB
  178. COSENTYX [Concomitant]
     Active Substance: SECUKINUMAB
  179. COSENTYX [Concomitant]
     Active Substance: SECUKINUMAB
  180. DESOGESTREL AND ETHINYL ESTRADIOL [Concomitant]
     Active Substance: DESOGESTREL\ETHINYL ESTRADIOL
     Indication: Product used for unknown indication
  181. DESOXIMETASONE [Concomitant]
     Active Substance: DESOXIMETASONE
     Indication: Rheumatoid arthritis
     Route: 058
  182. DESOXIMETASONE [Concomitant]
     Active Substance: DESOXIMETASONE
     Route: 048
  183. DESOXIMETASONE [Concomitant]
     Active Substance: DESOXIMETASONE
  184. DESOXIMETASONE [Concomitant]
     Active Substance: DESOXIMETASONE
  185. DESOXIMETASONE [Concomitant]
     Active Substance: DESOXIMETASONE
     Route: 048
  186. DESOXIMETASONE [Concomitant]
     Active Substance: DESOXIMETASONE
     Route: 048
  187. DESOXIMETASONE [Concomitant]
     Active Substance: DESOXIMETASONE
     Route: 058
  188. DESOXIMETASONE [Concomitant]
     Active Substance: DESOXIMETASONE
     Route: 048
  189. DESOXIMETASONE [Concomitant]
     Active Substance: DESOXIMETASONE
     Route: 048
  190. DESOXIMETASONE [Concomitant]
     Active Substance: DESOXIMETASONE
  191. DESOXIMETASONE [Concomitant]
     Active Substance: DESOXIMETASONE
     Route: 048
  192. DESOXIMETASONE [Concomitant]
     Active Substance: DESOXIMETASONE
     Route: 003
  193. DESOXIMETASONE [Concomitant]
     Active Substance: DESOXIMETASONE
  194. DESOXIMETASONE [Concomitant]
     Active Substance: DESOXIMETASONE
     Route: 058
  195. DESOXIMETASONE [Concomitant]
     Active Substance: DESOXIMETASONE
     Route: 048
  196. DESOXIMETASONE [Concomitant]
     Active Substance: DESOXIMETASONE
     Route: 048
  197. DESOXIMETASONE [Concomitant]
     Active Substance: DESOXIMETASONE
     Route: 048
  198. DESOXIMETASONE [Concomitant]
     Active Substance: DESOXIMETASONE
     Route: 048
  199. DESOXIMETASONE [Concomitant]
     Active Substance: DESOXIMETASONE
  200. DESOXIMETASONE [Concomitant]
     Active Substance: DESOXIMETASONE
     Route: 003
  201. DESOXIMETASONE [Concomitant]
     Active Substance: DESOXIMETASONE
  202. DESOXIMETASONE [Concomitant]
     Active Substance: DESOXIMETASONE
     Route: 048
  203. DESOXIMETASONE [Concomitant]
     Active Substance: DESOXIMETASONE
  204. DESOXIMETASONE [Concomitant]
     Active Substance: DESOXIMETASONE
     Route: 048
  205. DESOXIMETASONE [Concomitant]
     Active Substance: DESOXIMETASONE
  206. DESOXIMETASONE [Concomitant]
     Active Substance: DESOXIMETASONE
     Route: 003
  207. DESOXIMETASONE [Concomitant]
     Active Substance: DESOXIMETASONE
     Route: 003
  208. DESOXIMETASONE [Concomitant]
     Active Substance: DESOXIMETASONE
     Route: 048
  209. DESOXIMETASONE [Concomitant]
     Active Substance: DESOXIMETASONE
     Route: 042
  210. DESOXIMETASONE [Concomitant]
     Active Substance: DESOXIMETASONE
     Route: 048
  211. DESOXIMETASONE [Concomitant]
     Active Substance: DESOXIMETASONE
  212. DESOXIMETASONE [Concomitant]
     Active Substance: DESOXIMETASONE
  213. DESOXIMETASONE [Concomitant]
     Active Substance: DESOXIMETASONE
     Route: 058
  214. DESOXIMETASONE [Concomitant]
     Active Substance: DESOXIMETASONE
     Route: 048
  215. DESOXIMETASONE [Concomitant]
     Active Substance: DESOXIMETASONE
  216. DESOXIMETASONE [Concomitant]
     Active Substance: DESOXIMETASONE
  217. DESOXIMETASONE [Concomitant]
     Active Substance: DESOXIMETASONE
     Route: 058
  218. DESOXIMETASONE [Concomitant]
     Active Substance: DESOXIMETASONE
     Route: 042
  219. DESOXIMETASONE [Concomitant]
     Active Substance: DESOXIMETASONE
     Route: 048
  220. DESOXIMETASONE [Concomitant]
     Active Substance: DESOXIMETASONE
     Route: 048
  221. DICLOFENAC SODIUM [Concomitant]
     Active Substance: DICLOFENAC SODIUM
     Indication: Rheumatoid arthritis
  222. DICLOFENAC SODIUM [Concomitant]
     Active Substance: DICLOFENAC SODIUM
     Route: 047
  223. DICLOFENAC SODIUM [Concomitant]
     Active Substance: DICLOFENAC SODIUM
  224. DICLOFENAC SODIUM [Concomitant]
     Active Substance: DICLOFENAC SODIUM
     Route: 048
  225. DOXYCYCLINE [Concomitant]
     Active Substance: DOXYCYCLINE
     Indication: Product used for unknown indication
  226. DOXYCYCLINE [Concomitant]
     Active Substance: DOXYCYCLINE
  227. ENBREL [Concomitant]
     Active Substance: ETANERCEPT
     Indication: Psoriatic arthropathy
     Route: 058
  228. ENBREL [Concomitant]
     Active Substance: ETANERCEPT
     Indication: Rheumatoid arthritis
     Route: 058
  229. ENBREL [Concomitant]
     Active Substance: ETANERCEPT
     Route: 058
  230. ENBREL [Concomitant]
     Active Substance: ETANERCEPT
     Route: 058
  231. ENBREL [Concomitant]
     Active Substance: ETANERCEPT
     Route: 058
  232. ENBREL [Concomitant]
     Active Substance: ETANERCEPT
     Route: 058
  233. ENBREL [Concomitant]
     Active Substance: ETANERCEPT
     Route: 058
  234. ENBREL [Concomitant]
     Active Substance: ETANERCEPT
  235. ENBREL [Concomitant]
     Active Substance: ETANERCEPT
     Route: 058
  236. ENBREL [Concomitant]
     Active Substance: ETANERCEPT
     Route: 058
  237. ENBREL [Concomitant]
     Active Substance: ETANERCEPT
  238. ENBREL [Concomitant]
     Active Substance: ETANERCEPT
     Route: 058
  239. ENBREL [Concomitant]
     Active Substance: ETANERCEPT
     Route: 058
  240. ENBREL [Concomitant]
     Active Substance: ETANERCEPT
     Route: 058
  241. ENBREL [Concomitant]
     Active Substance: ETANERCEPT
     Route: 058
  242. ERGOCALCIFEROL [Concomitant]
     Active Substance: ERGOCALCIFEROL
     Indication: Product used for unknown indication
  243. FOLIC ACID [Concomitant]
     Active Substance: FOLIC ACID
     Indication: Rheumatoid arthritis
  244. FOLIC ACID [Concomitant]
     Active Substance: FOLIC ACID
  245. FOLIC ACID [Concomitant]
     Active Substance: FOLIC ACID
  246. FOLIC ACID [Concomitant]
     Active Substance: FOLIC ACID
  247. FOLIC ACID [Concomitant]
     Active Substance: FOLIC ACID
  248. FOLIC ACID [Concomitant]
     Active Substance: FOLIC ACID
  249. FOLIC ACID [Concomitant]
     Active Substance: FOLIC ACID
     Route: 058
  250. FOLIC ACID [Concomitant]
     Active Substance: FOLIC ACID
  251. FOLIC ACID [Concomitant]
     Active Substance: FOLIC ACID
  252. FOLIC ACID [Concomitant]
     Active Substance: FOLIC ACID
  253. FOLIC ACID [Concomitant]
     Active Substance: FOLIC ACID
     Route: 048
  254. FOLIC ACID [Concomitant]
     Active Substance: FOLIC ACID
  255. FOLIC ACID [Concomitant]
     Active Substance: FOLIC ACID
     Route: 048
  256. FOLIC ACID [Concomitant]
     Active Substance: FOLIC ACID
  257. FOLIC ACID [Concomitant]
     Active Substance: FOLIC ACID
  258. FOLIC ACID [Concomitant]
     Active Substance: FOLIC ACID
  259. FOLIC ACID [Concomitant]
     Active Substance: FOLIC ACID
     Route: 058
  260. FOLIC ACID [Concomitant]
     Active Substance: FOLIC ACID
     Route: 058
  261. FOLIC ACID [Concomitant]
     Active Substance: FOLIC ACID
  262. FOLIC ACID [Concomitant]
     Active Substance: FOLIC ACID
  263. FOLIC ACID [Concomitant]
     Active Substance: FOLIC ACID
  264. FOLIC ACID [Concomitant]
     Active Substance: FOLIC ACID
  265. FOLIC ACID [Concomitant]
     Active Substance: FOLIC ACID
  266. FOLIC ACID [Concomitant]
     Active Substance: FOLIC ACID
  267. FOLIC ACID [Concomitant]
     Active Substance: FOLIC ACID
     Route: 048
  268. FOLIC ACID [Concomitant]
     Active Substance: FOLIC ACID
  269. FOLIC ACID [Concomitant]
     Active Substance: FOLIC ACID
  270. FOLIC ACID [Concomitant]
     Active Substance: FOLIC ACID
  271. FOLIC ACID [Concomitant]
     Active Substance: FOLIC ACID
     Route: 048
  272. FOLIC ACID [Concomitant]
     Active Substance: FOLIC ACID
  273. FOLIC ACID [Concomitant]
     Active Substance: FOLIC ACID
  274. FOLIC ACID [Concomitant]
     Active Substance: FOLIC ACID
  275. FOLIC ACID [Concomitant]
     Active Substance: FOLIC ACID
  276. FOLIC ACID [Concomitant]
     Active Substance: FOLIC ACID
  277. FOLIC ACID [Concomitant]
     Active Substance: FOLIC ACID
     Route: 048
  278. FOLIC ACID [Concomitant]
     Active Substance: FOLIC ACID
     Route: 048
  279. FOLIC ACID [Concomitant]
     Active Substance: FOLIC ACID
     Route: 048
  280. FOLIC ACID [Concomitant]
     Active Substance: FOLIC ACID
     Route: 048
  281. FOLIC ACID [Concomitant]
     Active Substance: FOLIC ACID
  282. FOLIC ACID [Concomitant]
     Active Substance: FOLIC ACID
  283. FOLIC ACID [Concomitant]
     Active Substance: FOLIC ACID
  284. FOLIC ACID [Concomitant]
     Active Substance: FOLIC ACID
  285. FOLIC ACID [Concomitant]
     Active Substance: FOLIC ACID
  286. FOLIC ACID [Concomitant]
     Active Substance: FOLIC ACID
  287. FOLIC ACID [Concomitant]
     Active Substance: FOLIC ACID
  288. FOLIC ACID [Concomitant]
     Active Substance: FOLIC ACID
  289. FOLIC ACID [Concomitant]
     Active Substance: FOLIC ACID
  290. FOLIC ACID [Concomitant]
     Active Substance: FOLIC ACID
  291. FOLIC ACID [Concomitant]
     Active Substance: FOLIC ACID
     Route: 048
  292. FOLIC ACID [Concomitant]
     Active Substance: FOLIC ACID
  293. FOLIC ACID [Concomitant]
     Active Substance: FOLIC ACID
     Route: 048
  294. FOLIC ACID [Concomitant]
     Active Substance: FOLIC ACID
  295. FOSAMAX [Concomitant]
     Active Substance: ALENDRONATE SODIUM
     Indication: Rheumatoid arthritis
     Route: 048
  296. FOSAMAX [Concomitant]
     Active Substance: ALENDRONATE SODIUM
     Route: 005
  297. FOSAMAX [Concomitant]
     Active Substance: ALENDRONATE SODIUM
  298. FOSAMAX [Concomitant]
     Active Substance: ALENDRONATE SODIUM
     Route: 058
  299. FOSAMAX [Concomitant]
     Active Substance: ALENDRONATE SODIUM
  300. GLUCOSAMINE [Concomitant]
     Active Substance: GLUCOSAMINE
     Indication: Product used for unknown indication
  301. HUMIRA [Concomitant]
     Active Substance: ADALIMUMAB
     Indication: Rheumatoid arthritis
     Route: 058
  302. HUMIRA [Concomitant]
     Active Substance: ADALIMUMAB
     Indication: Psoriatic arthropathy
     Route: 048
  303. HUMIRA [Concomitant]
     Active Substance: ADALIMUMAB
     Route: 058
  304. HUMIRA [Concomitant]
     Active Substance: ADALIMUMAB
     Route: 058
  305. HUMIRA [Concomitant]
     Active Substance: ADALIMUMAB
     Route: 058
  306. HUMIRA [Concomitant]
     Active Substance: ADALIMUMAB
  307. HUMIRA [Concomitant]
     Active Substance: ADALIMUMAB
     Route: 058
  308. HUMIRA [Concomitant]
     Active Substance: ADALIMUMAB
  309. HUMIRA [Concomitant]
     Active Substance: ADALIMUMAB
     Route: 058
  310. HUMIRA [Concomitant]
     Active Substance: ADALIMUMAB
     Route: 058
  311. HUMIRA [Concomitant]
     Active Substance: ADALIMUMAB
  312. HUMIRA [Concomitant]
     Active Substance: ADALIMUMAB
  313. HUMIRA [Concomitant]
     Active Substance: ADALIMUMAB
     Route: 058
  314. HUMIRA [Concomitant]
     Active Substance: ADALIMUMAB
     Route: 058
  315. HUMIRA [Concomitant]
     Active Substance: ADALIMUMAB
     Route: 058
  316. HUMIRA [Concomitant]
     Active Substance: ADALIMUMAB
     Route: 058
  317. HUMIRA [Concomitant]
     Active Substance: ADALIMUMAB
     Route: 058
  318. HUMIRA [Concomitant]
     Active Substance: ADALIMUMAB
     Route: 058
  319. HUMIRA [Concomitant]
     Active Substance: ADALIMUMAB
     Route: 042
  320. HUMIRA [Concomitant]
     Active Substance: ADALIMUMAB
     Route: 058
  321. HUMIRA [Concomitant]
     Active Substance: ADALIMUMAB
     Route: 058
  322. HUMIRA [Concomitant]
     Active Substance: ADALIMUMAB
     Route: 058
  323. HUMIRA [Concomitant]
     Active Substance: ADALIMUMAB
     Route: 058
  324. IBUPROFEN [Concomitant]
     Active Substance: IBUPROFEN
     Indication: Product used for unknown indication
  325. INFLIXIMAB [Concomitant]
     Active Substance: INFLIXIMAB
     Indication: Rheumatoid arthritis
     Route: 042
  326. INFLIXIMAB [Concomitant]
     Active Substance: INFLIXIMAB
     Indication: Crohn^s disease
     Route: 042
  327. INFLIXIMAB [Concomitant]
     Active Substance: INFLIXIMAB
     Indication: Ankylosing spondylitis
     Route: 042
  328. INFLIXIMAB [Concomitant]
     Active Substance: INFLIXIMAB
  329. INFLIXIMAB [Concomitant]
     Active Substance: INFLIXIMAB
  330. INFLIXIMAB [Concomitant]
     Active Substance: INFLIXIMAB
  331. INFLIXIMAB [Concomitant]
     Active Substance: INFLIXIMAB
     Route: 040
  332. KEVZARA [Concomitant]
     Active Substance: SARILUMAB
     Indication: Rheumatoid arthritis
  333. KEVZARA [Concomitant]
     Active Substance: SARILUMAB
  334. LANSOPRAZOLE [Concomitant]
     Active Substance: LANSOPRAZOLE
     Indication: Product used for unknown indication
     Dosage: CAPSULE, DELAYED RELEASE
  335. LEVOTHYROXINE SODIUM [Concomitant]
     Active Substance: LEVOTHYROXINE SODIUM
     Indication: Product used for unknown indication
  336. LISINOPRIL [Concomitant]
     Active Substance: LISINOPRIL
     Indication: Product used for unknown indication
  337. LYRICA [Concomitant]
     Active Substance: PREGABALIN
     Indication: Fibromyalgia
  338. MAGNESIUM HYDROXIDE [Concomitant]
     Active Substance: MAGNESIUM HYDROXIDE
     Indication: Product used for unknown indication
  339. MELOXICAM [Concomitant]
     Active Substance: MELOXICAM
     Indication: Product used for unknown indication
  340. METHOTREXATE [Concomitant]
     Active Substance: METHOTREXATE
     Indication: Rheumatoid arthritis
  341. METHOTREXATE [Concomitant]
     Active Substance: METHOTREXATE
     Indication: Psoriatic arthropathy
     Route: 013
  342. METHOTREXATE [Concomitant]
     Active Substance: METHOTREXATE
     Route: 048
  343. METHOTREXATE [Concomitant]
     Active Substance: METHOTREXATE
     Route: 048
  344. METHOTREXATE [Concomitant]
     Active Substance: METHOTREXATE
     Route: 048
  345. METHOTREXATE [Concomitant]
     Active Substance: METHOTREXATE
  346. METHOTREXATE [Concomitant]
     Active Substance: METHOTREXATE
     Route: 058
  347. METHOTREXATE [Concomitant]
     Active Substance: METHOTREXATE
     Route: 013
  348. METHOTREXATE [Concomitant]
     Active Substance: METHOTREXATE
     Route: 013
  349. METHOTREXATE [Concomitant]
     Active Substance: METHOTREXATE
     Route: 048
  350. METHOTREXATE [Concomitant]
     Active Substance: METHOTREXATE
     Route: 048
  351. METHOTREXATE [Concomitant]
     Active Substance: METHOTREXATE
  352. METHOTREXATE [Concomitant]
     Active Substance: METHOTREXATE
     Route: 048
  353. METHOTREXATE [Concomitant]
     Active Substance: METHOTREXATE
     Route: 048
  354. METHOTREXATE [Concomitant]
     Active Substance: METHOTREXATE
  355. METHOTREXATE [Concomitant]
     Active Substance: METHOTREXATE
     Route: 048
  356. METHOTREXATE [Concomitant]
     Active Substance: METHOTREXATE
  357. METHOTREXATE [Concomitant]
     Active Substance: METHOTREXATE
  358. METHOTREXATE [Concomitant]
     Active Substance: METHOTREXATE
  359. METHOTREXATE [Concomitant]
     Active Substance: METHOTREXATE
     Route: 048
  360. METHOTREXATE [Concomitant]
     Active Substance: METHOTREXATE
     Route: 058
  361. METHOTREXATE [Concomitant]
     Active Substance: METHOTREXATE
     Route: 048
  362. METHOTREXATE [Concomitant]
     Active Substance: METHOTREXATE
     Route: 048
  363. METHOTREXATE [Concomitant]
     Active Substance: METHOTREXATE
     Route: 048
  364. METHOTREXATE [Concomitant]
     Active Substance: METHOTREXATE
     Route: 048
  365. METHOTREXATE [Concomitant]
     Active Substance: METHOTREXATE
     Route: 048
  366. METHOTREXATE [Concomitant]
     Active Substance: METHOTREXATE
     Route: 048
  367. METHOTREXATE [Concomitant]
     Active Substance: METHOTREXATE
  368. METHOTREXATE [Concomitant]
     Active Substance: METHOTREXATE
     Route: 048
  369. METHOTREXATE [Concomitant]
     Active Substance: METHOTREXATE
     Route: 048
  370. METHOTREXATE [Concomitant]
     Active Substance: METHOTREXATE
  371. METHOTREXATE [Concomitant]
     Active Substance: METHOTREXATE
     Route: 048
  372. METHOTREXATE [Concomitant]
     Active Substance: METHOTREXATE
  373. METHOTREXATE [Concomitant]
     Active Substance: METHOTREXATE
     Route: 013
  374. METHOTREXATE [Concomitant]
     Active Substance: METHOTREXATE
  375. METHOTREXATE [Concomitant]
     Active Substance: METHOTREXATE
     Route: 048
  376. METHOTREXATE [Concomitant]
     Active Substance: METHOTREXATE
     Route: 013
  377. METHOTREXATE [Concomitant]
     Active Substance: METHOTREXATE
     Route: 058
  378. METHOTREXATE [Concomitant]
     Active Substance: METHOTREXATE
     Route: 048
  379. METHOTREXATE [Concomitant]
     Active Substance: METHOTREXATE
  380. METHOTREXATE [Concomitant]
     Active Substance: METHOTREXATE
     Route: 048
  381. METHOTREXATE [Concomitant]
     Active Substance: METHOTREXATE
     Route: 048
  382. METHOTREXATE [Concomitant]
     Active Substance: METHOTREXATE
     Route: 048
  383. METHOTREXATE [Concomitant]
     Active Substance: METHOTREXATE
     Route: 048
  384. METHOTREXATE [Concomitant]
     Active Substance: METHOTREXATE
     Route: 048
  385. METHOTREXATE [Concomitant]
     Active Substance: METHOTREXATE
     Route: 048
  386. METHOTREXATE [Concomitant]
     Active Substance: METHOTREXATE
     Route: 048
  387. METHOTREXATE [Concomitant]
     Active Substance: METHOTREXATE
  388. METHOTREXATE [Concomitant]
     Active Substance: METHOTREXATE
  389. METHOTREXATE [Concomitant]
     Active Substance: METHOTREXATE
  390. METHOTREXATE [Concomitant]
     Active Substance: METHOTREXATE
     Route: 048
  391. MYCOPHENOLATE MOFETIL [Concomitant]
     Active Substance: MYCOPHENOLATE MOFETIL
     Indication: Product used for unknown indication
  392. NAPROXEN SODIUM [Concomitant]
     Active Substance: NAPROXEN SODIUM
     Indication: Rheumatoid arthritis
  393. NAPROXEN SODIUM [Concomitant]
     Active Substance: NAPROXEN SODIUM
  394. NAPROXEN SODIUM [Concomitant]
     Active Substance: NAPROXEN SODIUM
  395. NAPROXEN SODIUM [Concomitant]
     Active Substance: NAPROXEN SODIUM
  396. NAPROXEN SODIUM [Concomitant]
     Active Substance: NAPROXEN SODIUM
  397. NEOMYCIN [Concomitant]
     Active Substance: NEOMYCIN
     Indication: Product used for unknown indication
  398. OTEZLA [Concomitant]
     Active Substance: APREMILAST
     Indication: Product used for unknown indication
     Route: 048
  399. OTEZLA [Concomitant]
     Active Substance: APREMILAST
  400. OXYCODONE [Concomitant]
     Active Substance: OXYCODONE
     Indication: Product used for unknown indication
  401. OXYCODONE [Concomitant]
     Active Substance: OXYCODONE
  402. PANTOPRAZOLE SODIUM [Concomitant]
     Active Substance: PANTOPRAZOLE SODIUM
     Indication: Product used for unknown indication
  403. PIROXICAM [Concomitant]
     Active Substance: PIROXICAM
     Indication: Product used for unknown indication
  404. HYDROXYCHLOROQUINE DIPHOSPHATE [Concomitant]
     Active Substance: HYDROXYCHLOROQUINE DIPHOSPHATE
     Indication: Rheumatoid arthritis
     Route: 048
  405. HYDROXYCHLOROQUINE DIPHOSPHATE [Concomitant]
     Active Substance: HYDROXYCHLOROQUINE DIPHOSPHATE
  406. HYDROXYCHLOROQUINE DIPHOSPHATE [Concomitant]
     Active Substance: HYDROXYCHLOROQUINE DIPHOSPHATE
     Route: 048
  407. HYDROXYCHLOROQUINE DIPHOSPHATE [Concomitant]
     Active Substance: HYDROXYCHLOROQUINE DIPHOSPHATE
  408. HYDROXYCHLOROQUINE DIPHOSPHATE [Concomitant]
     Active Substance: HYDROXYCHLOROQUINE DIPHOSPHATE
  409. HYDROXYCHLOROQUINE DIPHOSPHATE [Concomitant]
     Active Substance: HYDROXYCHLOROQUINE DIPHOSPHATE
  410. HYDROXYCHLOROQUINE DIPHOSPHATE [Concomitant]
     Active Substance: HYDROXYCHLOROQUINE DIPHOSPHATE
     Route: 048
  411. PREDNISOLONE [Concomitant]
     Active Substance: PREDNISOLONE
     Indication: Product used for unknown indication
  412. PREDNISONE [Concomitant]
     Active Substance: PREDNISONE
     Indication: Rheumatoid arthritis
     Route: 048
  413. PREDNISONE [Concomitant]
     Active Substance: PREDNISONE
     Indication: Psoriatic arthropathy
     Route: 042
  414. PREDNISONE [Concomitant]
     Active Substance: PREDNISONE
     Indication: Condition aggravated
     Route: 048
  415. PREDNISONE [Concomitant]
     Active Substance: PREDNISONE
     Route: 042
  416. PREDNISONE [Concomitant]
     Active Substance: PREDNISONE
     Route: 048
  417. PREDNISONE [Concomitant]
     Active Substance: PREDNISONE
  418. PREDNISONE [Concomitant]
     Active Substance: PREDNISONE
     Route: 048
  419. PREDNISONE [Concomitant]
     Active Substance: PREDNISONE
     Route: 048
  420. PREDNISONE [Concomitant]
     Active Substance: PREDNISONE
  421. PREDNISONE [Concomitant]
     Active Substance: PREDNISONE
     Route: 048
  422. PREDNISONE [Concomitant]
     Active Substance: PREDNISONE
     Route: 048
  423. PREDNISONE [Concomitant]
     Active Substance: PREDNISONE
  424. PREDNISONE [Concomitant]
     Active Substance: PREDNISONE
     Route: 048
  425. PREDNISONE [Concomitant]
     Active Substance: PREDNISONE
     Route: 048
  426. PREDNISONE [Concomitant]
     Active Substance: PREDNISONE
  427. PREDNISONE [Concomitant]
     Active Substance: PREDNISONE
     Route: 040
  428. PREDNISONE [Concomitant]
     Active Substance: PREDNISONE
  429. PREDNISONE [Concomitant]
     Active Substance: PREDNISONE
     Route: 048
  430. PREDNISONE [Concomitant]
     Active Substance: PREDNISONE
     Route: 048
  431. PREDNISONE [Concomitant]
     Active Substance: PREDNISONE
     Route: 048
  432. PREDNISONE [Concomitant]
     Active Substance: PREDNISONE
  433. PSEUDOEPHEDRINE [Concomitant]
     Active Substance: PSEUDOEPHEDRINE
     Indication: Rheumatoid arthritis
  434. PSEUDOEPHEDRINE [Concomitant]
     Active Substance: PSEUDOEPHEDRINE
  435. PSEUDOEPHEDRINE [Concomitant]
     Active Substance: PSEUDOEPHEDRINE
  436. PSEUDOEPHEDRINE [Concomitant]
     Active Substance: PSEUDOEPHEDRINE
     Route: 048
  437. QUETIAPINE [Concomitant]
     Active Substance: QUETIAPINE
     Indication: Product used for unknown indication
  438. RAMIPRIL [Concomitant]
     Active Substance: RAMIPRIL
     Indication: Rheumatoid arthritis
  439. RAMIPRIL [Concomitant]
     Active Substance: RAMIPRIL
     Route: 016
  440. RAMIPRIL [Concomitant]
     Active Substance: RAMIPRIL
     Route: 040
  441. CETIRIZINE HYDROCHLORIDE [Concomitant]
     Active Substance: CETIRIZINE HYDROCHLORIDE
     Indication: Rheumatoid arthritis
  442. CETIRIZINE HYDROCHLORIDE [Concomitant]
     Active Substance: CETIRIZINE HYDROCHLORIDE
     Indication: Off label use
     Route: 048
  443. CETIRIZINE HYDROCHLORIDE [Concomitant]
     Active Substance: CETIRIZINE HYDROCHLORIDE
  444. CETIRIZINE HYDROCHLORIDE [Concomitant]
     Active Substance: CETIRIZINE HYDROCHLORIDE
     Route: 048
  445. CETIRIZINE HYDROCHLORIDE [Concomitant]
     Active Substance: CETIRIZINE HYDROCHLORIDE
     Route: 048
  446. CETIRIZINE HYDROCHLORIDE\PSEUDOEPHEDRINE HYDROCHLORIDE [Concomitant]
     Active Substance: CETIRIZINE HYDROCHLORIDE\PSEUDOEPHEDRINE HYDROCHLORIDE
     Indication: Rheumatoid arthritis
     Route: 048
  447. CETIRIZINE HYDROCHLORIDE\PSEUDOEPHEDRINE HYDROCHLORIDE [Concomitant]
     Active Substance: CETIRIZINE HYDROCHLORIDE\PSEUDOEPHEDRINE HYDROCHLORIDE
  448. CETIRIZINE HYDROCHLORIDE\PSEUDOEPHEDRINE HYDROCHLORIDE [Concomitant]
     Active Substance: CETIRIZINE HYDROCHLORIDE\PSEUDOEPHEDRINE HYDROCHLORIDE
     Route: 042
  449. CETIRIZINE HYDROCHLORIDE\PSEUDOEPHEDRINE HYDROCHLORIDE [Concomitant]
     Active Substance: CETIRIZINE HYDROCHLORIDE\PSEUDOEPHEDRINE HYDROCHLORIDE
  450. CETIRIZINE HYDROCHLORIDE\PSEUDOEPHEDRINE HYDROCHLORIDE [Concomitant]
     Active Substance: CETIRIZINE HYDROCHLORIDE\PSEUDOEPHEDRINE HYDROCHLORIDE
  451. CETIRIZINE HYDROCHLORIDE\PSEUDOEPHEDRINE HYDROCHLORIDE [Concomitant]
     Active Substance: CETIRIZINE HYDROCHLORIDE\PSEUDOEPHEDRINE HYDROCHLORIDE
  452. CETIRIZINE HYDROCHLORIDE\PSEUDOEPHEDRINE HYDROCHLORIDE [Concomitant]
     Active Substance: CETIRIZINE HYDROCHLORIDE\PSEUDOEPHEDRINE HYDROCHLORIDE
  453. CETIRIZINE HYDROCHLORIDE\PSEUDOEPHEDRINE HYDROCHLORIDE [Concomitant]
     Active Substance: CETIRIZINE HYDROCHLORIDE\PSEUDOEPHEDRINE HYDROCHLORIDE
  454. CETIRIZINE HYDROCHLORIDE\PSEUDOEPHEDRINE HYDROCHLORIDE [Concomitant]
     Active Substance: CETIRIZINE HYDROCHLORIDE\PSEUDOEPHEDRINE HYDROCHLORIDE
  455. CETIRIZINE HYDROCHLORIDE\PSEUDOEPHEDRINE HYDROCHLORIDE [Concomitant]
     Active Substance: CETIRIZINE HYDROCHLORIDE\PSEUDOEPHEDRINE HYDROCHLORIDE
  456. CETIRIZINE HYDROCHLORIDE\PSEUDOEPHEDRINE HYDROCHLORIDE [Concomitant]
     Active Substance: CETIRIZINE HYDROCHLORIDE\PSEUDOEPHEDRINE HYDROCHLORIDE
  457. CETIRIZINE HYDROCHLORIDE\PSEUDOEPHEDRINE HYDROCHLORIDE [Concomitant]
     Active Substance: CETIRIZINE HYDROCHLORIDE\PSEUDOEPHEDRINE HYDROCHLORIDE
  458. CETIRIZINE HYDROCHLORIDE\PSEUDOEPHEDRINE HYDROCHLORIDE [Concomitant]
     Active Substance: CETIRIZINE HYDROCHLORIDE\PSEUDOEPHEDRINE HYDROCHLORIDE
  459. CETIRIZINE HYDROCHLORIDE\PSEUDOEPHEDRINE HYDROCHLORIDE [Concomitant]
     Active Substance: CETIRIZINE HYDROCHLORIDE\PSEUDOEPHEDRINE HYDROCHLORIDE
  460. CETIRIZINE HYDROCHLORIDE\PSEUDOEPHEDRINE HYDROCHLORIDE [Concomitant]
     Active Substance: CETIRIZINE HYDROCHLORIDE\PSEUDOEPHEDRINE HYDROCHLORIDE
     Dosage: EXTENDED-RELEASE
  461. RISEDRONATE SODIUM [Concomitant]
     Active Substance: RISEDRONATE SODIUM
     Indication: Product used for unknown indication
  462. RITUXIMAB [Concomitant]
     Active Substance: RITUXIMAB
     Indication: Rheumatoid arthritis
     Route: 041
  463. RITUXIMAB [Concomitant]
     Active Substance: RITUXIMAB
     Route: 058
  464. RITUXIMAB [Concomitant]
     Active Substance: RITUXIMAB
     Route: 042
  465. RITUXIMAB [Concomitant]
     Active Substance: RITUXIMAB
     Route: 043
  466. RITUXIMAB [Concomitant]
     Active Substance: RITUXIMAB
  467. RITUXIMAB [Concomitant]
     Active Substance: RITUXIMAB
     Route: 040
  468. RITUXIMAB [Concomitant]
     Active Substance: RITUXIMAB
  469. SULFASALAZINE [Concomitant]
     Active Substance: SULFASALAZINE
     Indication: Product used for unknown indication
  470. SULFASALAZINE [Concomitant]
     Active Substance: SULFASALAZINE
  471. SULFASALAZINE [Concomitant]
     Active Substance: SULFASALAZINE
  472. SIMPONI [Concomitant]
     Active Substance: GOLIMUMAB
     Indication: Rheumatoid arthritis
     Dosage: SOLUTION SUBCUTANEOUS
     Route: 058
  473. SIMPONI [Concomitant]
     Active Substance: GOLIMUMAB
     Indication: Psoriatic arthropathy
     Dosage: SOLUTION SUBCUTANEOUS
  474. SIMPONI [Concomitant]
     Active Substance: GOLIMUMAB
     Dosage: SOLUTION SUBCUTANEOUS
     Route: 042
  475. SIMPONI [Concomitant]
     Active Substance: GOLIMUMAB
     Route: 058
  476. SIMPONI [Concomitant]
     Active Substance: GOLIMUMAB
  477. SIMPONI [Concomitant]
     Active Substance: GOLIMUMAB
     Route: 042
  478. SIMPONI [Concomitant]
     Active Substance: GOLIMUMAB
     Route: 058
  479. SIMPONI [Concomitant]
     Active Substance: GOLIMUMAB
     Dosage: SOLUTION SUBCUTANEOUS
     Route: 058
  480. STELARA [Concomitant]
     Active Substance: USTEKINUMAB
     Indication: Psoriatic arthropathy
     Dosage: SOLUTION SUBCUTANEOUS
     Route: 042
  481. STELARA [Concomitant]
     Active Substance: USTEKINUMAB
     Dosage: SOLUTION SUBCUTANEOUS
     Route: 058
  482. STELARA [Concomitant]
     Active Substance: USTEKINUMAB
     Route: 058
  483. STELARA [Concomitant]
     Active Substance: USTEKINUMAB
  484. STELARA [Concomitant]
     Active Substance: USTEKINUMAB
  485. STELARA [Concomitant]
     Active Substance: USTEKINUMAB
     Route: 058
  486. STELARA [Concomitant]
     Active Substance: USTEKINUMAB
     Route: 042
  487. STELARA [Concomitant]
     Active Substance: USTEKINUMAB
     Route: 058
  488. SULFAMETHOXAZOLE [Concomitant]
     Active Substance: SULFAMETHOXAZOLE
     Indication: Product used for unknown indication
  489. SULFAMETHOXAZOLE [Concomitant]
     Active Substance: SULFAMETHOXAZOLE
     Route: 067
  490. SULFAMETHOXAZOLE AND TRIMETHOPRIM [Concomitant]
     Active Substance: SULFAMETHOXAZOLE\TRIMETHOPRIM
     Indication: Product used for unknown indication
  491. SULFASALAZINE [Concomitant]
     Active Substance: SULFASALAZINE
     Indication: Rheumatoid arthritis
     Route: 048
  492. SULFASALAZINE [Concomitant]
     Active Substance: SULFASALAZINE
     Indication: Psoriatic arthropathy
  493. SULFASALAZINE [Concomitant]
     Active Substance: SULFASALAZINE
     Route: 048
  494. SULFASALAZINE [Concomitant]
     Active Substance: SULFASALAZINE
  495. SULFASALAZINE [Concomitant]
     Active Substance: SULFASALAZINE
  496. SULFASALAZINE [Concomitant]
     Active Substance: SULFASALAZINE
  497. SULFASALAZINE [Concomitant]
     Active Substance: SULFASALAZINE
     Route: 048
  498. SULFASALAZINE [Concomitant]
     Active Substance: SULFASALAZINE
     Route: 048
  499. SULFASALAZINE [Concomitant]
     Active Substance: SULFASALAZINE
     Route: 048
  500. SULFASALAZINE [Concomitant]
     Active Substance: SULFASALAZINE
     Dosage: 0 IN 1 DAY
     Route: 048
  501. SULFASALAZINE [Concomitant]
     Active Substance: SULFASALAZINE
  502. SULFASALAZINE [Concomitant]
     Active Substance: SULFASALAZINE
     Route: 048
  503. SULFASALAZINE [Concomitant]
     Active Substance: SULFASALAZINE
     Route: 048
  504. SULFASALAZINE [Concomitant]
     Active Substance: SULFASALAZINE
     Route: 048
  505. SULFASALAZINE [Concomitant]
     Active Substance: SULFASALAZINE
     Route: 048
  506. SULFASALAZINE [Concomitant]
     Active Substance: SULFASALAZINE
     Route: 048
  507. SULFASALAZINE [Concomitant]
     Active Substance: SULFASALAZINE
     Route: 048
  508. SULFASALAZINE [Concomitant]
     Active Substance: SULFASALAZINE
  509. SULFASALAZINE [Concomitant]
     Active Substance: SULFASALAZINE
  510. SULFASALAZINE [Concomitant]
     Active Substance: SULFASALAZINE
     Route: 058
  511. SULFASALAZINE [Concomitant]
     Active Substance: SULFASALAZINE
     Route: 048
  512. SULFASALAZINE [Concomitant]
     Active Substance: SULFASALAZINE
     Route: 048
  513. SULFASALAZINE [Concomitant]
     Active Substance: SULFASALAZINE
     Route: 058
  514. SULFASALAZINE [Concomitant]
     Active Substance: SULFASALAZINE
     Route: 058
  515. SULFASALAZINE [Concomitant]
     Active Substance: SULFASALAZINE
     Route: 058
  516. SULFASALAZINE [Concomitant]
     Active Substance: SULFASALAZINE
     Route: 048
  517. SULFASALAZINE [Concomitant]
     Active Substance: SULFASALAZINE
     Route: 048
  518. SULFASALAZINE [Concomitant]
     Active Substance: SULFASALAZINE
     Route: 048
  519. SULFASALAZINE [Concomitant]
     Active Substance: SULFASALAZINE
  520. SULFASALAZINE [Concomitant]
     Active Substance: SULFASALAZINE
     Route: 048
  521. SULFASALAZINE [Concomitant]
     Active Substance: SULFASALAZINE
     Route: 048
  522. SULFASALAZINE [Concomitant]
     Active Substance: SULFASALAZINE
     Route: 048
  523. SULFASALAZINE [Concomitant]
     Active Substance: SULFASALAZINE
     Route: 048
  524. SULFASALAZINE [Concomitant]
     Active Substance: SULFASALAZINE
     Route: 048
  525. SULFASALAZINE [Concomitant]
     Active Substance: SULFASALAZINE
     Route: 048
  526. SULFASALAZINE [Concomitant]
     Active Substance: SULFASALAZINE
     Route: 058
  527. SULFASALAZINE [Concomitant]
     Active Substance: SULFASALAZINE
  528. SULFASALAZINE [Concomitant]
     Active Substance: SULFASALAZINE
  529. SULFASALAZINE [Concomitant]
     Active Substance: SULFASALAZINE
     Route: 048
  530. SULFASALAZINE [Concomitant]
     Active Substance: SULFASALAZINE
     Route: 058
  531. SULFASALAZINE [Concomitant]
     Active Substance: SULFASALAZINE
     Route: 048
  532. SULFASALAZINE [Concomitant]
     Active Substance: SULFASALAZINE
     Route: 048
  533. SULFASALAZINE [Concomitant]
     Active Substance: SULFASALAZINE
  534. SULFASALAZINE [Concomitant]
     Active Substance: SULFASALAZINE
  535. SULFASALAZINE [Concomitant]
     Active Substance: SULFASALAZINE
     Route: 048
  536. SULFASALAZINE [Concomitant]
     Active Substance: SULFASALAZINE
     Route: 048
  537. SULFASALAZINE [Concomitant]
     Active Substance: SULFASALAZINE
     Route: 048
  538. SULFASALAZINE [Concomitant]
     Active Substance: SULFASALAZINE
  539. SULFASALAZINE [Concomitant]
     Active Substance: SULFASALAZINE
     Route: 048
  540. SULFASALAZINE [Concomitant]
     Active Substance: SULFASALAZINE
     Route: 058
  541. SULFASALAZINE [Concomitant]
     Active Substance: SULFASALAZINE
     Route: 048
  542. SULFASALAZINE [Concomitant]
     Active Substance: SULFASALAZINE
     Route: 058
  543. SULFASALAZINE [Concomitant]
     Active Substance: SULFASALAZINE
     Route: 048
  544. SULFASALAZINE [Concomitant]
     Active Substance: SULFASALAZINE
     Route: 058
  545. SULFASALAZINE [Concomitant]
     Active Substance: SULFASALAZINE
  546. SULFASALAZINE [Concomitant]
     Active Substance: SULFASALAZINE
     Route: 048
  547. SULFASALAZINE [Concomitant]
     Active Substance: SULFASALAZINE
     Route: 048
  548. SULFASALAZINE [Concomitant]
     Active Substance: SULFASALAZINE
  549. SULFASALAZINE [Concomitant]
     Active Substance: SULFASALAZINE
     Route: 048
  550. SULFASALAZINE [Concomitant]
     Active Substance: SULFASALAZINE
     Route: 048
  551. SULFASALAZINE [Concomitant]
     Active Substance: SULFASALAZINE
     Route: 048
  552. SULFASALAZINE [Concomitant]
     Active Substance: SULFASALAZINE
     Route: 048
  553. SULFASALAZINE [Concomitant]
     Active Substance: SULFASALAZINE
     Route: 058
  554. SULFASALAZINE [Concomitant]
     Active Substance: SULFASALAZINE
     Route: 048
  555. SULFASALAZINE [Concomitant]
     Active Substance: SULFASALAZINE
     Route: 048
  556. SULFASALAZINE [Concomitant]
     Active Substance: SULFASALAZINE
  557. SULFASALAZINE [Concomitant]
     Active Substance: SULFASALAZINE
     Route: 048
  558. SULFASALAZINE [Concomitant]
     Active Substance: SULFASALAZINE
  559. SULFASALAZINE [Concomitant]
     Active Substance: SULFASALAZINE
     Route: 048
  560. SULFASALAZINE [Concomitant]
     Active Substance: SULFASALAZINE
  561. TRAMADOL HYDROCHLORIDE [Concomitant]
     Active Substance: TRAMADOL HYDROCHLORIDE
     Indication: Product used for unknown indication
  562. TRAMADOL HYDROCHLORIDE [Concomitant]
     Active Substance: TRAMADOL HYDROCHLORIDE
     Route: 014
  563. TYLENOL WITH CODEINE [Concomitant]
     Active Substance: ACETAMINOPHEN\CODEINE PHOSPHATE
     Indication: Product used for unknown indication
  564. XELJANZ [Concomitant]
     Active Substance: TOFACITINIB CITRATE
     Indication: Rheumatoid arthritis
     Route: 048
  565. XELJANZ [Concomitant]
     Active Substance: TOFACITINIB CITRATE
  566. XELJANZ [Concomitant]
     Active Substance: TOFACITINIB CITRATE
     Route: 048
  567. XELJANZ [Concomitant]
     Active Substance: TOFACITINIB CITRATE
  568. XELJANZ [Concomitant]
     Active Substance: TOFACITINIB CITRATE
  569. XELJANZ [Concomitant]
     Active Substance: TOFACITINIB CITRATE
     Route: 048
  570. XELJANZ [Concomitant]
     Active Substance: TOFACITINIB CITRATE
     Route: 048
  571. XELJANZ [Concomitant]
     Active Substance: TOFACITINIB CITRATE
  572. XELJANZ [Concomitant]
     Active Substance: TOFACITINIB CITRATE
  573. XELJANZ [Concomitant]
     Active Substance: TOFACITINIB CITRATE
  574. XELJANZ [Concomitant]
     Active Substance: TOFACITINIB CITRATE
  575. CAFFEINE;DIHYDROCODEINE;PARACETAMOL [Concomitant]
     Indication: Product used for unknown indication
  576. FLUMETHASONE PIVALATE [Concomitant]
     Active Substance: FLUMETHASONE PIVALATE
     Indication: Rheumatoid arthritis
     Route: 058
  577. FLUMETHASONE PIVALATE [Concomitant]
     Active Substance: FLUMETHASONE PIVALATE
  578. FLUMETHASONE PIVALATE [Concomitant]
     Active Substance: FLUMETHASONE PIVALATE
  579. HYDROCORTISONE PROBUTATE [Concomitant]
     Active Substance: HYDROCORTISONE PROBUTATE
     Indication: Rheumatoid arthritis
  580. HYDROCORTISONE PROBUTATE [Concomitant]
     Active Substance: HYDROCORTISONE PROBUTATE
  581. HYDROCORTISONE PROBUTATE [Concomitant]
     Active Substance: HYDROCORTISONE PROBUTATE
  582. HYDROCORTISONE PROBUTATE [Concomitant]
     Active Substance: HYDROCORTISONE PROBUTATE
     Route: 003
  583. HYDROCORTISONE PROBUTATE [Concomitant]
     Active Substance: HYDROCORTISONE PROBUTATE
     Route: 048
  584. HYDROCORTISONE PROBUTATE [Concomitant]
     Active Substance: HYDROCORTISONE PROBUTATE
  585. PHTHALYLSULFATHIAZOLE [Concomitant]
     Active Substance: PHTHALYLSULFATHIAZOLE
     Indication: Rheumatoid arthritis
  586. PHTHALYLSULFATHIAZOLE [Concomitant]
     Active Substance: PHTHALYLSULFATHIAZOLE
     Route: 016
  587. PHTHALYLSULFATHIAZOLE [Concomitant]
     Active Substance: PHTHALYLSULFATHIAZOLE
     Route: 048
  588. PHTHALYLSULFATHIAZOLE [Concomitant]
     Active Substance: PHTHALYLSULFATHIAZOLE
     Route: 042
  589. PHTHALYLSULFATHIAZOLE [Concomitant]
     Active Substance: PHTHALYLSULFATHIAZOLE
  590. PHTHALYLSULFATHIAZOLE [Concomitant]
     Active Substance: PHTHALYLSULFATHIAZOLE
     Route: 048
  591. PHTHALYLSULFATHIAZOLE [Concomitant]
     Active Substance: PHTHALYLSULFATHIAZOLE
     Route: 048
  592. PHTHALYLSULFATHIAZOLE [Concomitant]
     Active Substance: PHTHALYLSULFATHIAZOLE
  593. PHTHALYLSULFATHIAZOLE [Concomitant]
     Active Substance: PHTHALYLSULFATHIAZOLE
     Route: 042
  594. PHTHALYLSULFATHIAZOLE [Concomitant]
     Active Substance: PHTHALYLSULFATHIAZOLE
  595. PHTHALYLSULFATHIAZOLE [Concomitant]
     Active Substance: PHTHALYLSULFATHIAZOLE
     Route: 058
  596. PHTHALYLSULFATHIAZOLE [Concomitant]
     Active Substance: PHTHALYLSULFATHIAZOLE
  597. PHTHALYLSULFATHIAZOLE [Concomitant]
     Active Substance: PHTHALYLSULFATHIAZOLE
     Route: 058
  598. PHTHALYLSULFATHIAZOLE [Concomitant]
     Active Substance: PHTHALYLSULFATHIAZOLE
     Route: 042
  599. PHTHALYLSULFATHIAZOLE [Concomitant]
     Active Substance: PHTHALYLSULFATHIAZOLE
  600. PHTHALYLSULFATHIAZOLE [Concomitant]
     Active Substance: PHTHALYLSULFATHIAZOLE
     Route: 048
  601. PHTHALYLSULFATHIAZOLE [Concomitant]
     Active Substance: PHTHALYLSULFATHIAZOLE
     Route: 048
  602. PHTHALYLSULFATHIAZOLE [Concomitant]
     Active Substance: PHTHALYLSULFATHIAZOLE
     Route: 058
  603. PHTHALYLSULFATHIAZOLE [Concomitant]
     Active Substance: PHTHALYLSULFATHIAZOLE
     Route: 048
  604. PHTHALYLSULFATHIAZOLE [Concomitant]
     Active Substance: PHTHALYLSULFATHIAZOLE
  605. PHTHALYLSULFATHIAZOLE [Concomitant]
     Active Substance: PHTHALYLSULFATHIAZOLE
     Route: 016
  606. PHTHALYLSULFATHIAZOLE [Concomitant]
     Active Substance: PHTHALYLSULFATHIAZOLE
     Route: 005
  607. HYDROXYCHLOROQUINE [Concomitant]
     Active Substance: HYDROXYCHLOROQUINE
     Indication: Rheumatoid arthritis
  608. HYDROXYCHLOROQUINE [Concomitant]
     Active Substance: HYDROXYCHLOROQUINE
     Route: 066
  609. HYDROXYCHLOROQUINE [Concomitant]
     Active Substance: HYDROXYCHLOROQUINE
     Route: 048
  610. HYDROXYCHLOROQUINE [Concomitant]
     Active Substance: HYDROXYCHLOROQUINE
  611. HYDROXYCHLOROQUINE [Concomitant]
     Active Substance: HYDROXYCHLOROQUINE
     Route: 048
  612. HYDROXYCHLOROQUINE [Concomitant]
     Active Substance: HYDROXYCHLOROQUINE
     Route: 048
  613. HYDROXYCHLOROQUINE [Concomitant]
     Active Substance: HYDROXYCHLOROQUINE
  614. HYDROXYCHLOROQUINE [Concomitant]
     Active Substance: HYDROXYCHLOROQUINE
  615. HYDROXYCHLOROQUINE [Concomitant]
     Active Substance: HYDROXYCHLOROQUINE
  616. HYDROXYCHLOROQUINE [Concomitant]
     Active Substance: HYDROXYCHLOROQUINE
     Route: 048
  617. HYDROXYCHLOROQUINE [Concomitant]
     Active Substance: HYDROXYCHLOROQUINE
     Route: 048
  618. HYDROXYCHLOROQUINE [Concomitant]
     Active Substance: HYDROXYCHLOROQUINE
  619. HYDROXYCHLOROQUINE [Concomitant]
     Active Substance: HYDROXYCHLOROQUINE
     Route: 048
  620. HYDROXYCHLOROQUINE [Concomitant]
     Active Substance: HYDROXYCHLOROQUINE
     Route: 048
  621. HYDROXYCHLOROQUINE [Concomitant]
     Active Substance: HYDROXYCHLOROQUINE
  622. HYDROXYCHLOROQUINE [Concomitant]
     Active Substance: HYDROXYCHLOROQUINE
     Route: 048
  623. OXYCODONE TEREPHTHALATE [Concomitant]
     Active Substance: OXYCODONE TEREPHTHALATE
     Indication: Product used for unknown indication
  624. METHOTREXATE SODIUM [Concomitant]
     Active Substance: METHOTREXATE SODIUM
     Indication: Rheumatoid arthritis
     Route: 048
  625. METHOTREXATE SODIUM [Concomitant]
     Active Substance: METHOTREXATE SODIUM
     Route: 058
  626. METHOTREXATE SODIUM [Concomitant]
     Active Substance: METHOTREXATE SODIUM
  627. METHOTREXATE SODIUM [Concomitant]
     Active Substance: METHOTREXATE SODIUM
     Route: 048
  628. METHOTREXATE SODIUM [Concomitant]
     Active Substance: METHOTREXATE SODIUM
     Route: 048
  629. METHOTREXATE SODIUM [Concomitant]
     Active Substance: METHOTREXATE SODIUM
  630. METHOTREXATE SODIUM [Concomitant]
     Active Substance: METHOTREXATE SODIUM
     Route: 013
  631. METHOTREXATE SODIUM [Concomitant]
     Active Substance: METHOTREXATE SODIUM
     Route: 048
  632. METHOTREXATE SODIUM [Concomitant]
     Active Substance: METHOTREXATE SODIUM
     Route: 058
  633. METHOTREXATE SODIUM [Concomitant]
     Active Substance: METHOTREXATE SODIUM
     Route: 048
  634. METHOTREXATE SODIUM [Concomitant]
     Active Substance: METHOTREXATE SODIUM
     Route: 048
  635. METHOTREXATE SODIUM [Concomitant]
     Active Substance: METHOTREXATE SODIUM
     Route: 048
  636. METHOTREXATE SODIUM [Concomitant]
     Active Substance: METHOTREXATE SODIUM
     Route: 048
  637. METHOTREXATE SODIUM [Concomitant]
     Active Substance: METHOTREXATE SODIUM
  638. METHOTREXATE SODIUM [Concomitant]
     Active Substance: METHOTREXATE SODIUM
     Route: 048
  639. METHOTREXATE SODIUM [Concomitant]
     Active Substance: METHOTREXATE SODIUM
     Route: 048
  640. METHOTREXATE SODIUM [Concomitant]
     Active Substance: METHOTREXATE SODIUM
     Route: 013
  641. METHOTREXATE SODIUM [Concomitant]
     Active Substance: METHOTREXATE SODIUM
     Route: 013
  642. METHOTREXATE SODIUM [Concomitant]
     Active Substance: METHOTREXATE SODIUM
     Route: 058
  643. METHOTREXATE SODIUM [Concomitant]
     Active Substance: METHOTREXATE SODIUM
     Route: 048
  644. METHOTREXATE SODIUM [Concomitant]
     Active Substance: METHOTREXATE SODIUM
  645. METHOTREXATE SODIUM [Concomitant]
     Active Substance: METHOTREXATE SODIUM
     Route: 048
  646. METHOTREXATE SODIUM [Concomitant]
     Active Substance: METHOTREXATE SODIUM
     Route: 013
  647. METHOTREXATE SODIUM [Concomitant]
     Active Substance: METHOTREXATE SODIUM
     Route: 048
  648. METHOTREXATE SODIUM [Concomitant]
     Active Substance: METHOTREXATE SODIUM
     Route: 048
  649. METHOTREXATE SODIUM [Concomitant]
     Active Substance: METHOTREXATE SODIUM
  650. METHOTREXATE SODIUM [Concomitant]
     Active Substance: METHOTREXATE SODIUM
  651. METHOTREXATE SODIUM [Concomitant]
     Active Substance: METHOTREXATE SODIUM
     Route: 048
  652. DICLOFENAC SODIUM [Concomitant]
     Active Substance: DICLOFENAC SODIUM
     Indication: Product used for unknown indication
     Route: 047
  653. DICLOFENAC SODIUM [Concomitant]
     Active Substance: DICLOFENAC SODIUM
  654. DICLOFENAC SODIUM [Concomitant]
     Active Substance: DICLOFENAC SODIUM
  655. DICLOFENAC SODIUM [Concomitant]
     Active Substance: DICLOFENAC SODIUM
  656. DICLOFENAC SODIUM [Concomitant]
     Active Substance: DICLOFENAC SODIUM
  657. DICLOFENAC SODIUM [Concomitant]
     Active Substance: DICLOFENAC SODIUM
  658. DICLOFENAC SODIUM [Concomitant]
     Active Substance: DICLOFENAC SODIUM
  659. DICLOFENAC SODIUM [Concomitant]
     Active Substance: DICLOFENAC SODIUM
  660. DICLOFENAC SODIUM [Concomitant]
     Active Substance: DICLOFENAC SODIUM
     Route: 058
  661. DICLOFENAC SODIUM [Concomitant]
     Active Substance: DICLOFENAC SODIUM
     Dosage: COATED TABLET
  662. DICLOFENAC POTASSIUM [Concomitant]
     Active Substance: DICLOFENAC POTASSIUM
     Indication: Product used for unknown indication
  663. DICLOFENAC POTASSIUM [Concomitant]
     Active Substance: DICLOFENAC POTASSIUM
     Route: 048
  664. DICLOFENAC POTASSIUM [Concomitant]
     Active Substance: DICLOFENAC POTASSIUM
     Route: 047
  665. DICLOFENAC POTASSIUM [Concomitant]
     Active Substance: DICLOFENAC POTASSIUM
  666. DICLOFENAC POTASSIUM [Concomitant]
     Active Substance: DICLOFENAC POTASSIUM
  667. CORTISONE ACETATE [Concomitant]
     Active Substance: CORTISONE ACETATE
     Indication: Rheumatoid arthritis
  668. CORTISONE ACETATE [Concomitant]
     Active Substance: CORTISONE ACETATE
  669. CORTISONE ACETATE [Concomitant]
     Active Substance: CORTISONE ACETATE
  670. CORTISONE ACETATE [Concomitant]
     Active Substance: CORTISONE ACETATE
  671. CORTISONE ACETATE [Concomitant]
     Active Substance: CORTISONE ACETATE
  672. CORTISONE ACETATE [Concomitant]
     Active Substance: CORTISONE ACETATE
  673. CORTISONE ACETATE [Concomitant]
     Active Substance: CORTISONE ACETATE
  674. CORTISONE ACETATE [Concomitant]
     Active Substance: CORTISONE ACETATE
  675. CORTISONE ACETATE [Concomitant]
     Active Substance: CORTISONE ACETATE
     Route: 048
  676. CORTISONE ACETATE [Concomitant]
     Active Substance: CORTISONE ACETATE
  677. CORTISONE ACETATE [Concomitant]
     Active Substance: CORTISONE ACETATE
  678. CORTISONE ACETATE [Concomitant]
     Active Substance: CORTISONE ACETATE
  679. CORTISONE ACETATE [Concomitant]
     Active Substance: CORTISONE ACETATE
     Route: 003
  680. CORTISONE ACETATE [Concomitant]
     Active Substance: CORTISONE ACETATE
  681. CORTISONE ACETATE [Concomitant]
     Active Substance: CORTISONE ACETATE
     Route: 048
  682. CORTISONE ACETATE [Concomitant]
     Active Substance: CORTISONE ACETATE
  683. CORTISONE ACETATE [Concomitant]
     Active Substance: CORTISONE ACETATE
     Route: 058
  684. CORTISONE ACETATE [Concomitant]
     Active Substance: CORTISONE ACETATE
  685. CORTISONE ACETATE [Concomitant]
     Active Substance: CORTISONE ACETATE
  686. CORTISONE ACETATE [Concomitant]
     Active Substance: CORTISONE ACETATE
  687. CORTISONE ACETATE [Concomitant]
     Active Substance: CORTISONE ACETATE
  688. CORTISONE ACETATE [Concomitant]
     Active Substance: CORTISONE ACETATE
     Route: 048
  689. CORTISONE ACETATE [Concomitant]
     Active Substance: CORTISONE ACETATE
  690. CORTISONE ACETATE [Concomitant]
     Active Substance: CORTISONE ACETATE
     Route: 058
  691. CORTISONE ACETATE [Concomitant]
     Active Substance: CORTISONE ACETATE
  692. CORTISONE ACETATE [Concomitant]
     Active Substance: CORTISONE ACETATE
  693. CORTISONE ACETATE [Concomitant]
     Active Substance: CORTISONE ACETATE
  694. CORTISONE ACETATE [Concomitant]
     Active Substance: CORTISONE ACETATE
  695. CORTISONE ACETATE [Concomitant]
     Active Substance: CORTISONE ACETATE
  696. CORTISONE ACETATE [Concomitant]
     Active Substance: CORTISONE ACETATE
  697. CORTISONE ACETATE [Concomitant]
     Active Substance: CORTISONE ACETATE
     Route: 048
  698. CORTISONE ACETATE [Concomitant]
     Active Substance: CORTISONE ACETATE
  699. CORTISONE ACETATE [Concomitant]
     Active Substance: CORTISONE ACETATE
  700. CORTISONE ACETATE [Concomitant]
     Active Substance: CORTISONE ACETATE
     Route: 058
  701. CORTISONE ACETATE [Concomitant]
     Active Substance: CORTISONE ACETATE
  702. CORTISONE ACETATE [Concomitant]
     Active Substance: CORTISONE ACETATE
  703. CORTISONE ACETATE [Concomitant]
     Active Substance: CORTISONE ACETATE
  704. CORTISONE ACETATE [Concomitant]
     Active Substance: CORTISONE ACETATE
  705. ACETAMINOPHEN AND CODEINE [Concomitant]
     Active Substance: ACETAMINOPHEN\CODEINE PHOSPHATE
     Indication: Product used for unknown indication
  706. ACETAMINOPHEN AND CODEINE [Concomitant]
     Active Substance: ACETAMINOPHEN\CODEINE PHOSPHATE
  707. ALLERCET-DC [CETIRIZINE HYDROCHLORIDE;PHENYLEPHRINE HYDROCHLORIDE] [Concomitant]
     Indication: Product used for unknown indication
  708. LEFLUNOMIDE [Concomitant]
     Active Substance: LEFLUNOMIDE
     Indication: Rheumatoid arthritis
  709. LEFLUNOMIDE [Concomitant]
     Active Substance: LEFLUNOMIDE
     Route: 048
  710. LEFLUNOMIDE [Concomitant]
     Active Substance: LEFLUNOMIDE
  711. LEFLUNOMIDE [Concomitant]
     Active Substance: LEFLUNOMIDE
     Route: 048
  712. LEFLUNOMIDE [Concomitant]
     Active Substance: LEFLUNOMIDE
  713. LEFLUNOMIDE [Concomitant]
     Active Substance: LEFLUNOMIDE
  714. LEFLUNOMIDE [Concomitant]
     Active Substance: LEFLUNOMIDE
  715. LEFLUNOMIDE [Concomitant]
     Active Substance: LEFLUNOMIDE
  716. CALCIUM GLUBIONATE [Concomitant]
     Active Substance: CALCIUM GLUBIONATE
     Indication: Product used for unknown indication
     Route: 048
  717. CETRIMIDE [Concomitant]
     Active Substance: CETRIMIDE
     Indication: Product used for unknown indication
  718. CHLORHEXIDINE [Concomitant]
     Active Substance: CHLORHEXIDINE
     Indication: Product used for unknown indication
  719. CHLORHEXIDINE [Concomitant]
     Active Substance: CHLORHEXIDINE
  720. CHLORHEXIDINE [Concomitant]
     Active Substance: CHLORHEXIDINE
     Route: 048
  721. ACETAMINOPHEN\PROPOXYPHENE [Concomitant]
     Active Substance: ACETAMINOPHEN\PROPOXYPHENE
     Indication: Product used for unknown indication
  722. EMEND (FOSAPREPITANT DIMEGLUMINE) [Concomitant]
     Active Substance: FOSAPREPITANT DIMEGLUMINE
     Indication: Product used for unknown indication
     Dosage: POWDER FOR?SOLUTION?INTRAVENOUS
  723. ERELZI [Concomitant]
     Active Substance: ETANERCEPT-SZZS
     Indication: Rheumatoid arthritis
  724. ERELZI [Concomitant]
     Active Substance: ETANERCEPT-SZZS
     Route: 058
  725. ERELZI [Concomitant]
     Active Substance: ETANERCEPT-SZZS
     Route: 058
  726. ERELZI [Concomitant]
     Active Substance: ETANERCEPT-SZZS
     Route: 048
  727. ERELZI [Concomitant]
     Active Substance: ETANERCEPT-SZZS
     Route: 058
  728. ERELZI [Concomitant]
     Active Substance: ETANERCEPT-SZZS
     Route: 058
  729. ERELZI [Concomitant]
     Active Substance: ETANERCEPT-SZZS
     Route: 058
  730. ERELZI [Concomitant]
     Active Substance: ETANERCEPT-SZZS
     Route: 048
  731. ERELZI [Concomitant]
     Active Substance: ETANERCEPT-SZZS
  732. ERELZI [Concomitant]
     Active Substance: ETANERCEPT-SZZS
     Route: 058
  733. ERELZI [Concomitant]
     Active Substance: ETANERCEPT-SZZS
     Route: 058
  734. FOSAVANCE [Concomitant]
     Active Substance: ALENDRONATE SODIUM\CHOLECALCIFEROL
     Indication: Product used for unknown indication
     Route: 048
  735. FOSAVANCE [Concomitant]
     Active Substance: ALENDRONATE SODIUM\CHOLECALCIFEROL
  736. HYDROCORTISONE ACETATE [Concomitant]
     Active Substance: HYDROCORTISONE ACETATE
     Indication: Rheumatoid arthritis
     Route: 003
  737. HYDROCORTISONE ACETATE [Concomitant]
     Active Substance: HYDROCORTISONE ACETATE
     Route: 058
  738. HYDROCORTISONE ACETATE [Concomitant]
     Active Substance: HYDROCORTISONE ACETATE
     Route: 048
  739. HYDROCORTISONE ACETATE [Concomitant]
     Active Substance: HYDROCORTISONE ACETATE
  740. HYDROXYCHLOROQUINE SULFATE [Concomitant]
     Active Substance: HYDROXYCHLOROQUINE SULFATE
     Indication: Systemic lupus erythematosus
  741. HYDROXYCHLOROQUINE SULFATE [Concomitant]
     Active Substance: HYDROXYCHLOROQUINE SULFATE
     Indication: Rheumatoid arthritis
  742. HYDROXYCHLOROQUINE SULFATE [Concomitant]
     Active Substance: HYDROXYCHLOROQUINE SULFATE
     Route: 048
  743. HYDROXYCHLOROQUINE SULFATE [Concomitant]
     Active Substance: HYDROXYCHLOROQUINE SULFATE
  744. HYDROXYCHLOROQUINE SULFATE [Concomitant]
     Active Substance: HYDROXYCHLOROQUINE SULFATE
  745. HYDROXYCHLOROQUINE SULFATE [Concomitant]
     Active Substance: HYDROXYCHLOROQUINE SULFATE
  746. HYDROXYCHLOROQUINE SULFATE [Concomitant]
     Active Substance: HYDROXYCHLOROQUINE SULFATE
     Route: 048
  747. HYDROXYCHLOROQUINE SULFATE [Concomitant]
     Active Substance: HYDROXYCHLOROQUINE SULFATE
     Route: 066
  748. HYDROXYCHLOROQUINE SULFATE [Concomitant]
     Active Substance: HYDROXYCHLOROQUINE SULFATE
     Route: 048
  749. HYDROXYCHLOROQUINE SULFATE [Concomitant]
     Active Substance: HYDROXYCHLOROQUINE SULFATE
     Route: 048
  750. HYDROXYCHLOROQUINE SULFATE [Concomitant]
     Active Substance: HYDROXYCHLOROQUINE SULFATE
  751. HYDROXYCHLOROQUINE SULFATE [Concomitant]
     Active Substance: HYDROXYCHLOROQUINE SULFATE
     Route: 066
  752. HYDROXYCHLOROQUINE SULFATE [Concomitant]
     Active Substance: HYDROXYCHLOROQUINE SULFATE
     Route: 048
  753. HYDROXYCHLOROQUINE SULFATE [Concomitant]
     Active Substance: HYDROXYCHLOROQUINE SULFATE
  754. HYDROXYCHLOROQUINE SULFATE [Concomitant]
     Active Substance: HYDROXYCHLOROQUINE SULFATE
     Route: 048
  755. HYDROXYCHLOROQUINE SULFATE [Concomitant]
     Active Substance: HYDROXYCHLOROQUINE SULFATE
  756. HYDROXYCHLOROQUINE SULFATE [Concomitant]
     Active Substance: HYDROXYCHLOROQUINE SULFATE
     Route: 058
  757. HYDROXYCHLOROQUINE SULFATE [Concomitant]
     Active Substance: HYDROXYCHLOROQUINE SULFATE
  758. HYDROXYCHLOROQUINE SULFATE [Concomitant]
     Active Substance: HYDROXYCHLOROQUINE SULFATE
  759. HYDROXYCHLOROQUINE SULFATE [Concomitant]
     Active Substance: HYDROXYCHLOROQUINE SULFATE
     Route: 005
  760. HYDROXYCHLOROQUINE SULFATE [Concomitant]
     Active Substance: HYDROXYCHLOROQUINE SULFATE
  761. HYDROXYCHLOROQUINE SULFATE [Concomitant]
     Active Substance: HYDROXYCHLOROQUINE SULFATE
     Route: 048
  762. HYDROXYCHLOROQUINE SULFATE [Concomitant]
     Active Substance: HYDROXYCHLOROQUINE SULFATE
     Route: 066
  763. HYDROXYCHLOROQUINE SULFATE [Concomitant]
     Active Substance: HYDROXYCHLOROQUINE SULFATE
     Route: 048
  764. HYDROXYCHLOROQUINE SULFATE [Concomitant]
     Active Substance: HYDROXYCHLOROQUINE SULFATE
  765. HYDROXYCHLOROQUINE SULFATE [Concomitant]
     Active Substance: HYDROXYCHLOROQUINE SULFATE
     Route: 048
  766. LEFLUNOMIDE [Concomitant]
     Active Substance: LEFLUNOMIDE
     Indication: Rheumatoid arthritis
     Route: 048
  767. LEFLUNOMIDE [Concomitant]
     Active Substance: LEFLUNOMIDE
     Route: 048
  768. LEFLUNOMIDE [Concomitant]
     Active Substance: LEFLUNOMIDE
  769. LEFLUNOMIDE [Concomitant]
     Active Substance: LEFLUNOMIDE
  770. LEFLUNOMIDE [Concomitant]
     Active Substance: LEFLUNOMIDE
  771. LEFLUNOMIDE [Concomitant]
     Active Substance: LEFLUNOMIDE
     Route: 048
  772. LEFLUNOMIDE [Concomitant]
     Active Substance: LEFLUNOMIDE
  773. LEFLUNOMIDE [Concomitant]
     Active Substance: LEFLUNOMIDE
     Route: 048
  774. LEFLUNOMIDE [Concomitant]
     Active Substance: LEFLUNOMIDE
     Route: 048
  775. LEFLUNOMIDE [Concomitant]
     Active Substance: LEFLUNOMIDE
  776. LEFLUNOMIDE [Concomitant]
     Active Substance: LEFLUNOMIDE
  777. LEFLUNOMIDE [Concomitant]
     Active Substance: LEFLUNOMIDE
     Route: 048
  778. LEFLUNOMIDE [Concomitant]
     Active Substance: LEFLUNOMIDE
  779. LEFLUNOMIDE [Concomitant]
     Active Substance: LEFLUNOMIDE
  780. LEFLUNOMIDE [Concomitant]
     Active Substance: LEFLUNOMIDE
  781. FLUMETHASONE PIVALATE [Concomitant]
     Active Substance: FLUMETHASONE PIVALATE
     Indication: Rheumatoid arthritis
     Route: 058
  782. FLUMETHASONE PIVALATE [Concomitant]
     Active Substance: FLUMETHASONE PIVALATE
  783. FLUMETHASONE PIVALATE [Concomitant]
     Active Substance: FLUMETHASONE PIVALATE
     Route: 003
  784. FLUMETHASONE PIVALATE [Concomitant]
     Active Substance: FLUMETHASONE PIVALATE
     Route: 058
  785. FLUMETHASONE PIVALATE [Concomitant]
     Active Substance: FLUMETHASONE PIVALATE
  786. METHYLPREDNISOLONE SODIUM SUCCINATE [Concomitant]
     Active Substance: METHYLPREDNISOLONE SODIUM SUCCINATE
     Indication: Rheumatoid arthritis
  787. METHYLPREDNISOLONE SODIUM SUCCINATE [Concomitant]
     Active Substance: METHYLPREDNISOLONE SODIUM SUCCINATE
  788. PERIOGARD [Concomitant]
     Active Substance: CHLORHEXIDINE GLUCONATE
     Indication: Rheumatoid arthritis
     Route: 002
  789. PERIOGARD [Concomitant]
     Active Substance: CHLORHEXIDINE GLUCONATE
  790. ACETAMINOPHEN AND CODEINE [Concomitant]
     Active Substance: ACETAMINOPHEN\CODEINE PHOSPHATE
     Indication: Product used for unknown indication
  791. REMICADE [Concomitant]
     Active Substance: INFLIXIMAB
     Indication: Rheumatoid arthritis
     Dosage: POWDER FOR?SOLUTION?INTRAVENOUS
  792. REMICADE [Concomitant]
     Active Substance: INFLIXIMAB
     Indication: Psoriatic arthropathy
     Dosage: POWDER FOR?SOLUTION?INTRAVENOUS
  793. REMICADE [Concomitant]
     Active Substance: INFLIXIMAB
     Indication: Psoriasis
     Dosage: POWDER FOR?SOLUTION?INTRAVENOUS
  794. REMICADE [Concomitant]
     Active Substance: INFLIXIMAB
     Indication: Crohn^s disease
     Dosage: POWDER FOR?SOLUTION?INTRAVENOUS
  795. REMICADE [Concomitant]
     Active Substance: INFLIXIMAB
     Indication: Ankylosing spondylitis
     Dosage: POWDER FOR?SOLUTION?INTRAVENOUS
     Route: 058
  796. REMICADE [Concomitant]
     Active Substance: INFLIXIMAB
     Dosage: POWDER FOR?SOLUTION?INTRAVENOUS
  797. REMICADE [Concomitant]
     Active Substance: INFLIXIMAB
     Dosage: POWDER FOR?SOLUTION?INTRAVENOUS
  798. REMICADE [Concomitant]
     Active Substance: INFLIXIMAB
     Dosage: POWDER FOR?SOLUTION?INTRAVENOUS
  799. REMICADE [Concomitant]
     Active Substance: INFLIXIMAB
     Dosage: POWDER FOR?SOLUTION?INTRAVENOUS
     Route: 042
  800. REMICADE [Concomitant]
     Active Substance: INFLIXIMAB
     Route: 048
  801. REMICADE [Concomitant]
     Active Substance: INFLIXIMAB
     Route: 042
  802. REMICADE [Concomitant]
     Active Substance: INFLIXIMAB
  803. REMICADE [Concomitant]
     Active Substance: INFLIXIMAB
     Route: 042
  804. REMICADE [Concomitant]
     Active Substance: INFLIXIMAB
     Dosage: POWDER FOR?SOLUTION?INTRAVENOUS
     Route: 040
  805. REMICADE [Concomitant]
     Active Substance: INFLIXIMAB
     Dosage: POWDER AND SOLVENT FOR SOLUTION FOR INJECTION
     Route: 040
  806. TOPICORT [Concomitant]
     Active Substance: DESOXIMETASONE
     Indication: Rheumatoid arthritis
     Route: 003
  807. TOPICORT [Concomitant]
     Active Substance: DESOXIMETASONE
     Route: 058
  808. TOPICORT [Concomitant]
     Active Substance: DESOXIMETASONE
     Route: 048
  809. TOPICORT [Concomitant]
     Active Substance: DESOXIMETASONE
  810. VITAMIN C [Concomitant]
     Active Substance: ASCORBIC ACID
     Indication: Product used for unknown indication
  811. PREDNISONE [Concomitant]
     Active Substance: PREDNISONE
     Indication: Rheumatoid arthritis
     Route: 048
  812. PREDNISONE [Concomitant]
     Active Substance: PREDNISONE
  813. caffeine; dihydrocodeine; paracetamol [Concomitant]
     Indication: Product used for unknown indication
  814. ALENDRONATE SODIUM\CHOLECALCIFEROL [Concomitant]
     Active Substance: ALENDRONATE SODIUM\CHOLECALCIFEROL
     Indication: Rheumatoid arthritis
  815. ALENDRONATE SODIUM\CHOLECALCIFEROL [Concomitant]
     Active Substance: ALENDRONATE SODIUM\CHOLECALCIFEROL
     Route: 048
  816. ALENDRONATE SODIUM\CHOLECALCIFEROL [Concomitant]
     Active Substance: ALENDRONATE SODIUM\CHOLECALCIFEROL
  817. ALENDRONIC ACID [Concomitant]
     Active Substance: ALENDRONIC ACID
     Indication: Rheumatoid arthritis
  818. ALENDRONIC ACID [Concomitant]
     Active Substance: ALENDRONIC ACID
     Route: 048
  819. APREMILAST [Concomitant]
     Active Substance: APREMILAST
     Indication: Product used for unknown indication
     Route: 048
  820. APREMILAST [Concomitant]
     Active Substance: APREMILAST
  821. APREMILAST [Concomitant]
     Active Substance: APREMILAST
  822. APREMILAST [Concomitant]
     Active Substance: APREMILAST
  823. APREPITANT [Concomitant]
     Active Substance: APREPITANT
     Indication: Product used for unknown indication
  824. APREPITANT [Concomitant]
     Active Substance: APREPITANT
     Route: 042
  825. APREPITANT [Concomitant]
     Active Substance: APREPITANT
  826. APREPITANT [Concomitant]
     Active Substance: APREPITANT
     Route: 048
  827. APREPITANT [Concomitant]
     Active Substance: APREPITANT
  828. APREPITANT [Concomitant]
     Active Substance: APREPITANT
  829. APREPITANT [Concomitant]
     Active Substance: APREPITANT
     Route: 048
  830. APREPITANT [Concomitant]
     Active Substance: APREPITANT
  831. CERTOLIZUMAB PEGOL [Concomitant]
     Active Substance: CERTOLIZUMAB PEGOL
     Indication: Rheumatoid arthritis
     Route: 048
  832. CERTOLIZUMAB PEGOL [Concomitant]
     Active Substance: CERTOLIZUMAB PEGOL
     Route: 058
  833. CERTOLIZUMAB PEGOL [Concomitant]
     Active Substance: CERTOLIZUMAB PEGOL
  834. GOLIMUMAB [Concomitant]
     Active Substance: GOLIMUMAB
     Indication: Rheumatoid arthritis
     Route: 058
  835. GOLIMUMAB [Concomitant]
     Active Substance: GOLIMUMAB
     Indication: Prostatic specific antigen
  836. GOLIMUMAB [Concomitant]
     Active Substance: GOLIMUMAB
     Route: 058
  837. GOLIMUMAB [Concomitant]
     Active Substance: GOLIMUMAB
     Route: 058
  838. GOLIMUMAB [Concomitant]
     Active Substance: GOLIMUMAB
     Route: 042
  839. GOLIMUMAB [Concomitant]
     Active Substance: GOLIMUMAB
     Route: 052
  840. GOLIMUMAB [Concomitant]
     Active Substance: GOLIMUMAB
  841. CETIRIZINE HYDROCHLORIDE [Concomitant]
     Active Substance: CETIRIZINE HYDROCHLORIDE
     Indication: Rheumatoid arthritis
  842. CETIRIZINE HYDROCHLORIDE [Concomitant]
     Active Substance: CETIRIZINE HYDROCHLORIDE
  843. CETIRIZINE HYDROCHLORIDE [Concomitant]
     Active Substance: CETIRIZINE HYDROCHLORIDE
  844. CETIRIZINE HYDROCHLORIDE [Concomitant]
     Active Substance: CETIRIZINE HYDROCHLORIDE
     Route: 048
  845. CETIRIZINE HYDROCHLORIDE [Concomitant]
     Active Substance: CETIRIZINE HYDROCHLORIDE
     Route: 042
  846. CETIRIZINE HYDROCHLORIDE [Concomitant]
     Active Substance: CETIRIZINE HYDROCHLORIDE
  847. CETIRIZINE HYDROCHLORIDE [Concomitant]
     Active Substance: CETIRIZINE HYDROCHLORIDE
  848. CETIRIZINE HYDROCHLORIDE [Concomitant]
     Active Substance: CETIRIZINE HYDROCHLORIDE
     Route: 048
  849. CETIRIZINE HYDROCHLORIDE [Concomitant]
     Active Substance: CETIRIZINE HYDROCHLORIDE
     Route: 048
  850. CETIRIZINE HYDROCHLORIDE [Concomitant]
     Active Substance: CETIRIZINE HYDROCHLORIDE
  851. CETIRIZINE HYDROCHLORIDE [Concomitant]
     Active Substance: CETIRIZINE HYDROCHLORIDE
     Route: 042
  852. CETIRIZINE HYDROCHLORIDE [Concomitant]
     Active Substance: CETIRIZINE HYDROCHLORIDE
  853. CETIRIZINE HYDROCHLORIDE [Concomitant]
     Active Substance: CETIRIZINE HYDROCHLORIDE
     Route: 048
  854. CETIRIZINE HYDROCHLORIDE [Concomitant]
     Active Substance: CETIRIZINE HYDROCHLORIDE
     Route: 048
  855. CETIRIZINE HYDROCHLORIDE [Concomitant]
     Active Substance: CETIRIZINE HYDROCHLORIDE
     Route: 048
  856. CETIRIZINE HYDROCHLORIDE [Concomitant]
     Active Substance: CETIRIZINE HYDROCHLORIDE
     Route: 048
  857. CETIRIZINE HYDROCHLORIDE [Concomitant]
     Active Substance: CETIRIZINE HYDROCHLORIDE
  858. CETIRIZINE HYDROCHLORIDE [Concomitant]
     Active Substance: CETIRIZINE HYDROCHLORIDE
     Route: 048
  859. CETIRIZINE HYDROCHLORIDE [Concomitant]
     Active Substance: CETIRIZINE HYDROCHLORIDE
     Route: 048
  860. CETIRIZINE HYDROCHLORIDE [Concomitant]
     Active Substance: CETIRIZINE HYDROCHLORIDE
  861. CETIRIZINE HYDROCHLORIDE [Concomitant]
     Active Substance: CETIRIZINE HYDROCHLORIDE
  862. CETIRIZINE HYDROCHLORIDE [Concomitant]
     Active Substance: CETIRIZINE HYDROCHLORIDE
  863. HYDROCORTISONE [Concomitant]
     Active Substance: HYDROCORTISONE
     Indication: Rheumatoid arthritis
     Route: 058
  864. ISOPROPYL ALCOHOL [Concomitant]
     Active Substance: ISOPROPYL ALCOHOL
     Indication: Product used for unknown indication
     Dosage: LIQUID TOPICAL
  865. ISOPROPYL ALCOHOL [Concomitant]
     Active Substance: ISOPROPYL ALCOHOL
     Dosage: LIQUID TOPICAL
  866. MARVELON [Concomitant]
     Active Substance: DESOGESTREL\ETHINYL ESTRADIOL
     Indication: Product used for unknown indication
  867. MARVELON [Concomitant]
     Active Substance: DESOGESTREL\ETHINYL ESTRADIOL
     Indication: Product used for unknown indication
  868. PANTOPRAZOLE SODIUM [Concomitant]
     Active Substance: PANTOPRAZOLE SODIUM
     Indication: Product used for unknown indication
  869. PANTOPRAZOLE SODIUM [Concomitant]
     Active Substance: PANTOPRAZOLE SODIUM
  870. PANTOPRAZOLE SODIUM [Concomitant]
     Active Substance: PANTOPRAZOLE SODIUM
     Indication: Product used for unknown indication
  871. PSEUDOEPHEDRINE HYDROCHLORIDE [Concomitant]
     Active Substance: PSEUDOEPHEDRINE HYDROCHLORIDE
     Indication: Rheumatoid arthritis
  872. PSEUDOEPHEDRINE HYDROCHLORIDE [Concomitant]
     Active Substance: PSEUDOEPHEDRINE HYDROCHLORIDE
  873. PSEUDOEPHEDRINE HYDROCHLORIDE [Concomitant]
     Active Substance: PSEUDOEPHEDRINE HYDROCHLORIDE
  874. PSEUDOEPHEDRINE HYDROCHLORIDE [Concomitant]
     Active Substance: PSEUDOEPHEDRINE HYDROCHLORIDE
  875. PSEUDOEPHEDRINE HYDROCHLORIDE [Concomitant]
     Active Substance: PSEUDOEPHEDRINE HYDROCHLORIDE
  876. PSEUDOEPHEDRINE HYDROCHLORIDE [Concomitant]
     Active Substance: PSEUDOEPHEDRINE HYDROCHLORIDE
     Route: 048
  877. PSEUDOEPHEDRINE HYDROCHLORIDE [Concomitant]
     Active Substance: PSEUDOEPHEDRINE HYDROCHLORIDE
  878. PSEUDOEPHEDRINE HYDROCHLORIDE [Concomitant]
     Active Substance: PSEUDOEPHEDRINE HYDROCHLORIDE
     Route: 048
  879. PSEUDOEPHEDRINE HYDROCHLORIDE [Concomitant]
     Active Substance: PSEUDOEPHEDRINE HYDROCHLORIDE
  880. PSEUDOEPHEDRINE HYDROCHLORIDE [Concomitant]
     Active Substance: PSEUDOEPHEDRINE HYDROCHLORIDE
  881. PSEUDOEPHEDRINE HYDROCHLORIDE [Concomitant]
     Active Substance: PSEUDOEPHEDRINE HYDROCHLORIDE
  882. PSEUDOEPHEDRINE HYDROCHLORIDE [Concomitant]
     Active Substance: PSEUDOEPHEDRINE HYDROCHLORIDE
  883. CETIRIZINE HYDROCHLORIDE [Concomitant]
     Active Substance: CETIRIZINE HYDROCHLORIDE
     Indication: Rheumatoid arthritis
  884. CETIRIZINE HYDROCHLORIDE [Concomitant]
     Active Substance: CETIRIZINE HYDROCHLORIDE
  885. TOCILIZUMAB [Concomitant]
     Active Substance: TOCILIZUMAB
     Indication: Rheumatoid arthritis
  886. TOCILIZUMAB [Concomitant]
     Active Substance: TOCILIZUMAB
     Route: 042
  887. TOCILIZUMAB [Concomitant]
     Active Substance: TOCILIZUMAB
     Route: 040
  888. TOCILIZUMAB [Concomitant]
     Active Substance: TOCILIZUMAB
     Route: 058
  889. TOFACITINIB CITRATE [Concomitant]
     Active Substance: TOFACITINIB CITRATE
     Indication: Rheumatoid arthritis
  890. TOFACITINIB CITRATE [Concomitant]
     Active Substance: TOFACITINIB CITRATE
  891. TOFACITINIB CITRATE [Concomitant]
     Active Substance: TOFACITINIB CITRATE
  892. TOFACITINIB CITRATE [Concomitant]
     Active Substance: TOFACITINIB CITRATE
  893. TYLENOL [Concomitant]
     Active Substance: ACETAMINOPHEN
     Indication: Product used for unknown indication
  894. USTEKINUMAB [Concomitant]
     Active Substance: USTEKINUMAB
     Indication: Psoriatic arthropathy
     Route: 058
  895. VITAMIN D3 [Concomitant]
     Active Substance: CHOLECALCIFEROL
     Indication: Product used for unknown indication
  896. ZOPICLONE [Concomitant]
     Active Substance: ZOPICLONE
     Indication: Product used for unknown indication
  897. CELECOXIB [Concomitant]
     Active Substance: CELECOXIB
     Indication: Product used for unknown indication
  898. CELECOXIB [Concomitant]
     Active Substance: CELECOXIB
  899. CELECOXIB [Concomitant]
     Active Substance: CELECOXIB
  900. CELECOXIB [Concomitant]
     Active Substance: CELECOXIB
  901. AIMOVIG [Concomitant]
     Active Substance: ERENUMAB-AOOE
     Indication: Migraine
  902. AIMOVIG [Concomitant]
     Active Substance: ERENUMAB-AOOE
     Indication: Rheumatoid arthritis
  903. ALENDRONATE SODIUM [Concomitant]
     Active Substance: ALENDRONATE SODIUM
     Indication: Rheumatoid arthritis
     Route: 048
  904. ALENDRONATE SODIUM [Concomitant]
     Active Substance: ALENDRONATE SODIUM
  905. ATOMOXETINE HYDROCHLORIDE [Concomitant]
     Active Substance: ATOMOXETINE HYDROCHLORIDE
     Indication: Migraine
  906. ATOMOXETINE HYDROCHLORIDE [Concomitant]
     Active Substance: ATOMOXETINE HYDROCHLORIDE
  907. ATOMOXETINE HYDROCHLORIDE [Concomitant]
     Active Substance: ATOMOXETINE HYDROCHLORIDE
  908. ATOMOXETINE HYDROCHLORIDE [Concomitant]
     Active Substance: ATOMOXETINE HYDROCHLORIDE
  909. ATOMOXETINE HYDROCHLORIDE [Concomitant]
     Active Substance: ATOMOXETINE HYDROCHLORIDE
  910. ATOMOXETINE HYDROCHLORIDE [Concomitant]
     Active Substance: ATOMOXETINE HYDROCHLORIDE
  911. ATOMOXETINE HYDROCHLORIDE [Concomitant]
     Active Substance: ATOMOXETINE HYDROCHLORIDE
  912. BERINERT [Concomitant]
     Active Substance: HUMAN C1-ESTERASE INHIBITOR
     Indication: Migraine
  913. BERINERT [Concomitant]
     Active Substance: HUMAN C1-ESTERASE INHIBITOR
  914. BETAMETHASONE [Concomitant]
     Active Substance: BETAMETHASONE
     Indication: Product used for unknown indication
  915. BOTULINUM TOXIN TYPE A [Concomitant]
     Active Substance: BOTULINUM TOXIN TYPE A
     Indication: Product used for unknown indication
     Dosage: POWDER FOR SOLUTION
  916. BOTULINUM TOXIN TYPE A [Concomitant]
     Active Substance: BOTULINUM TOXIN TYPE A
     Dosage: POWDER FOR SOLUTION
  917. BUPRENORPHINE HYDROCHLORIDE [Concomitant]
     Active Substance: BUPRENORPHINE HYDROCHLORIDE
     Indication: Product used for unknown indication
  918. BUPRENORPHINE HYDROCHLORIDE [Concomitant]
     Active Substance: BUPRENORPHINE HYDROCHLORIDE
  919. BUPRENORPHINE HYDROCHLORIDE [Concomitant]
     Active Substance: BUPRENORPHINE HYDROCHLORIDE
  920. BUTRANS [Concomitant]
     Active Substance: BUPRENORPHINE
     Indication: Product used for unknown indication
     Dosage: PATCH
  921. CALCIUM ASCORBATE [Concomitant]
     Active Substance: CALCIUM ASCORBATE
     Indication: Product used for unknown indication
  922. CALCIUM GLUBIONATE [Concomitant]
     Active Substance: CALCIUM GLUBIONATE
     Indication: Product used for unknown indication
  923. CALCIUM GLUCONATE [Concomitant]
     Active Substance: CALCIUM GLUCONATE
     Indication: Product used for unknown indication
     Route: 048
  924. CANDESARTAN [Concomitant]
     Active Substance: CANDESARTAN
     Indication: Migraine
     Route: 048
  925. CHLORHEXIDINE GLUCONATE [Concomitant]
     Active Substance: CHLORHEXIDINE GLUCONATE
     Indication: Rheumatoid arthritis
  926. CHLORHEXIDINE GLUCONATE [Concomitant]
     Active Substance: CHLORHEXIDINE GLUCONATE
  927. CYCLOBENZAPRINE [Concomitant]
     Active Substance: CYCLOBENZAPRINE
     Indication: Product used for unknown indication
  928. DICLOFENAC DIETHYLAMINE [Concomitant]
     Active Substance: DICLOFENAC DIETHYLAMINE
     Indication: Product used for unknown indication
  929. DOMPERIDONE MALEATE [Concomitant]
     Active Substance: DOMPERIDONE MALEATE
     Indication: Product used for unknown indication
  930. FINACEA [Concomitant]
     Active Substance: AZELAIC ACID
     Indication: Product used for unknown indication
  931. FLUMETHASONE [Concomitant]
     Active Substance: FLUMETHASONE
     Indication: Product used for unknown indication
  932. GOLD [Concomitant]
     Active Substance: GOLD
     Indication: Rheumatoid arthritis
  933. GOLD SODIUM THIOMALATE [Concomitant]
     Active Substance: GOLD SODIUM THIOMALATE
     Indication: Product used for unknown indication
     Route: 030
  934. HYDROMORPHONE [Concomitant]
     Active Substance: HYDROMORPHONE
     Indication: Product used for unknown indication
  935. LAMICTAL [Concomitant]
     Active Substance: LAMOTRIGINE
     Indication: Product used for unknown indication
     Route: 048
  936. LAMICTAL [Concomitant]
     Active Substance: LAMOTRIGINE
     Route: 048
  937. LAMICTAL [Concomitant]
     Active Substance: LAMOTRIGINE
     Route: 048
  938. LAMICTAL [Concomitant]
     Active Substance: LAMOTRIGINE
     Route: 048
  939. LAMICTAL [Concomitant]
     Active Substance: LAMOTRIGINE
     Route: 048
  940. LAMICTAL [Concomitant]
     Active Substance: LAMOTRIGINE
     Route: 048
  941. LAMICTAL [Concomitant]
     Active Substance: LAMOTRIGINE
     Route: 048
  942. LAMICTAL [Concomitant]
     Active Substance: LAMOTRIGINE
     Route: 048
  943. LAMICTAL [Concomitant]
     Active Substance: LAMOTRIGINE
     Route: 048
  944. LAMICTAL [Concomitant]
     Active Substance: LAMOTRIGINE
  945. LAMOTRIGINE [Concomitant]
     Active Substance: LAMOTRIGINE
     Indication: Product used for unknown indication
     Route: 048
  946. LAMOTRIGINE [Concomitant]
     Active Substance: LAMOTRIGINE
     Route: 048
  947. LAMOTRIGINE [Concomitant]
     Active Substance: LAMOTRIGINE
     Route: 048
  948. LEVOMILNACIPRAN [Concomitant]
     Active Substance: LEVOMILNACIPRAN
     Indication: Product used for unknown indication
  949. MAGNESIUM CITRATE [Concomitant]
     Active Substance: MAGNESIUM CITRATE
     Indication: Product used for unknown indication
  950. MYRBETRIQ [Concomitant]
     Active Substance: MIRABEGRON
     Indication: Product used for unknown indication
  951. MYRBETRIQ [Concomitant]
     Active Substance: MIRABEGRON
     Route: 048
  952. MYRBETRIQ [Concomitant]
     Active Substance: MIRABEGRON
     Dosage: TABLET (EXTENDED- RELEASE)
  953. MYRBETRIQ [Concomitant]
     Active Substance: MIRABEGRON
     Dosage: TABLET (EXTENDED- RELEASE)
     Route: 048
  954. NAPROXEN [Concomitant]
     Active Substance: NAPROXEN
     Indication: Product used for unknown indication
     Dosage: TABLET (ENTERIC- COATED)
  955. NAPROXEN [Concomitant]
     Active Substance: NAPROXEN
  956. NUCALA [Concomitant]
     Active Substance: MEPOLIZUMAB
     Indication: Product used for unknown indication
  957. PANTOPRAZOLE [Concomitant]
     Active Substance: PANTOPRAZOLE
     Indication: Product used for unknown indication
  958. PHENYLEPHRINE HYDROCHLORIDE [Concomitant]
     Active Substance: PHENYLEPHRINE HYDROCHLORIDE
     Indication: Rheumatoid arthritis
  959. PHTHALYLSULFATHIAZOLE [Concomitant]
     Active Substance: PHTHALYLSULFATHIAZOLE
     Indication: Rheumatoid arthritis
     Route: 048
  960. PHTHALYLSULFATHIAZOLE [Concomitant]
     Active Substance: PHTHALYLSULFATHIAZOLE
     Route: 048
  961. RANITIDINE HYDROCHLORIDE [Concomitant]
     Active Substance: RANITIDINE HYDROCHLORIDE
     Indication: Rheumatoid arthritis
  962. DIETARY SUPPLEMENT\HERBALS [Concomitant]
     Active Substance: DIETARY SUPPLEMENT\HERBALS
     Indication: Product used for unknown indication
  963. GOLD SODIUM THIOMALATE [Concomitant]
     Active Substance: GOLD SODIUM THIOMALATE
     Indication: Product used for unknown indication
  964. TOFACITINIB [Concomitant]
     Active Substance: TOFACITINIB
     Indication: Rheumatoid arthritis
  965. TOPIRAMATE [Concomitant]
     Active Substance: TOPIRAMATE
     Indication: Rheumatoid arthritis
  966. TOPIRAMATE [Concomitant]
     Active Substance: TOPIRAMATE
     Indication: Migraine
  967. TOPIRAMATE [Concomitant]
     Active Substance: TOPIRAMATE
  968. ERENUMAB [Concomitant]
     Active Substance: ERENUMAB
     Indication: Migraine
  969. ERENUMAB [Concomitant]
     Active Substance: ERENUMAB
  970. MILK OF MAGNESIA [Concomitant]
     Active Substance: MAGNESIUM HYDROXIDE
     Indication: Product used for unknown indication
  971. CETIRIZINE [Concomitant]
     Active Substance: CETIRIZINE HYDROCHLORIDE
     Indication: Rheumatoid arthritis
  972. CETIRIZINE [Concomitant]
     Active Substance: CETIRIZINE HYDROCHLORIDE
  973. CETIRIZINE [Concomitant]
     Active Substance: CETIRIZINE HYDROCHLORIDE
     Route: 040
  974. CETIRIZINE [Concomitant]
     Active Substance: CETIRIZINE HYDROCHLORIDE
  975. CETIRIZINE [Concomitant]
     Active Substance: CETIRIZINE HYDROCHLORIDE
     Route: 048
  976. CETIRIZINE [Concomitant]
     Active Substance: CETIRIZINE HYDROCHLORIDE
     Route: 040
  977. CETIRIZINE [Concomitant]
     Active Substance: CETIRIZINE HYDROCHLORIDE
     Route: 048
  978. CETIRIZINE [Concomitant]
     Active Substance: CETIRIZINE HYDROCHLORIDE
     Route: 048
  979. CETIRIZINE [Concomitant]
     Active Substance: CETIRIZINE HYDROCHLORIDE
     Route: 048
  980. CETIRIZINE [Concomitant]
     Active Substance: CETIRIZINE HYDROCHLORIDE
  981. HYRIMOZ [Concomitant]
     Active Substance: ADALIMUMAB-ADAZ
     Indication: Rheumatoid arthritis
     Route: 058
  982. HYRIMOZ [Concomitant]
     Active Substance: ADALIMUMAB-ADAZ
  983. HYRIMOZ [Concomitant]
     Active Substance: ADALIMUMAB-ADAZ
  984. HYRIMOZ [Concomitant]
     Active Substance: ADALIMUMAB-ADAZ
     Route: 058
  985. HYRIMOZ [Concomitant]
     Active Substance: ADALIMUMAB-ADAZ
     Route: 058
  986. HYRIMOZ [Concomitant]
     Active Substance: ADALIMUMAB-ADAZ
     Route: 058
  987. LEFLUNOMIDE [Concomitant]
     Active Substance: LEFLUNOMIDE
     Indication: Rheumatoid arthritis
  988. LEFLUNOMIDE [Concomitant]
     Active Substance: LEFLUNOMIDE
     Route: 048
  989. LEFLUNOMIDE [Concomitant]
     Active Substance: LEFLUNOMIDE
  990. LEFLUNOMIDE [Concomitant]
     Active Substance: LEFLUNOMIDE
  991. LEFLUNOMIDE [Concomitant]
     Active Substance: LEFLUNOMIDE
  992. LEFLUNOMIDE [Concomitant]
     Active Substance: LEFLUNOMIDE
     Route: 048
  993. MYCOPHENOLATE MOFETIL [Concomitant]
     Active Substance: MYCOPHENOLATE MOFETIL
     Indication: Product used for unknown indication
  994. VOLTAREN [Concomitant]
     Active Substance: DICLOFENAC SODIUM
     Indication: Product used for unknown indication
  995. VOLTAREN [Concomitant]
     Active Substance: DICLOFENAC SODIUM
  996. VOLTAREN [Concomitant]
     Active Substance: DICLOFENAC SODIUM
     Route: 047
  997. VOLTAREN [Concomitant]
     Active Substance: DICLOFENAC SODIUM
  998. VOLTAREN [Concomitant]
     Active Substance: DICLOFENAC SODIUM
     Route: 058
  999. CETIRIZINE HYDROCHLORIDE AND PSEUDOEPHEDRINE HYDROCHLORIDE [Concomitant]
     Active Substance: CETIRIZINE HYDROCHLORIDE\PSEUDOEPHEDRINE HYDROCHLORIDE
     Indication: Rheumatoid arthritis
  1000. CETIRIZINE HYDROCHLORIDE AND PSEUDOEPHEDRINE HYDROCHLORIDE [Concomitant]
     Active Substance: CETIRIZINE HYDROCHLORIDE\PSEUDOEPHEDRINE HYDROCHLORIDE
  1001. CETIRIZINE HYDROCHLORIDE AND PSEUDOEPHEDRINE HYDROCHLORIDE [Concomitant]
     Active Substance: CETIRIZINE HYDROCHLORIDE\PSEUDOEPHEDRINE HYDROCHLORIDE
  1002. CETIRIZINE HYDROCHLORIDE AND PSEUDOEPHEDRINE HYDROCHLORIDE [Concomitant]
     Active Substance: CETIRIZINE HYDROCHLORIDE\PSEUDOEPHEDRINE HYDROCHLORIDE
     Route: 048
  1003. CETIRIZINE HYDROCHLORIDE AND PSEUDOEPHEDRINE HYDROCHLORIDE [Concomitant]
     Active Substance: CETIRIZINE HYDROCHLORIDE\PSEUDOEPHEDRINE HYDROCHLORIDE
     Route: 048
  1004. CETIRIZINE HYDROCHLORIDE AND PSEUDOEPHEDRINE HYDROCHLORIDE [Concomitant]
     Active Substance: CETIRIZINE HYDROCHLORIDE\PSEUDOEPHEDRINE HYDROCHLORIDE
  1005. CETIRIZINE HYDROCHLORIDE AND PSEUDOEPHEDRINE HYDROCHLORIDE [Concomitant]
     Active Substance: CETIRIZINE HYDROCHLORIDE\PSEUDOEPHEDRINE HYDROCHLORIDE
  1006. CETIRIZINE HYDROCHLORIDE AND PSEUDOEPHEDRINE HYDROCHLORIDE [Concomitant]
     Active Substance: CETIRIZINE HYDROCHLORIDE\PSEUDOEPHEDRINE HYDROCHLORIDE
     Route: 048
  1007. CYCLOBENZAPRINE HYDROCHLORIDE [Concomitant]
     Active Substance: CYCLOBENZAPRINE HYDROCHLORIDE
     Indication: Product used for unknown indication
  1008. DICLOFENAC DIETHYLAMINE [Concomitant]
     Active Substance: DICLOFENAC DIETHYLAMINE
     Indication: Product used for unknown indication
  1009. TIBOLONE [Concomitant]
     Active Substance: TIBOLONE
     Indication: Product used for unknown indication
  1010. OXYCODONE HYDROCHLORIDE [Concomitant]
     Active Substance: OXYCODONE HYDROCHLORIDE
     Indication: Product used for unknown indication
  1011. APREMILAST [Concomitant]
     Active Substance: APREMILAST
     Indication: Product used for unknown indication
  1012. ALFACALCIDOL [Concomitant]
     Active Substance: ALFACALCIDOL
     Indication: Product used for unknown indication
  1013. ACETAMINOPHEN\OXYCODONE HYDROCHLORIDE\OXYCODONE TEREPHTHALATE [Concomitant]
     Active Substance: ACETAMINOPHEN\OXYCODONE HYDROCHLORIDE\OXYCODONE TEREPHTHALATE
     Indication: Rheumatoid arthritis
     Route: 041

REACTIONS (3)
  - Death [Fatal]
  - Prescribed underdose [Unknown]
  - Off label use [Unknown]
